FAERS Safety Report 24617914 (Version 4)
Quarter: 2025Q2

REPORT INFORMATION
  Report Type: Spontaneous
  Country: CA (occurrence: CA)
  Receive Date: 20241114
  Receipt Date: 20250620
  Transmission Date: 20250717
  Serious: Yes (Other)
  Sender: ALEXION PHARMACEUTICALS
  Company Number: CA-002147023-NVSC2020CA102759

PATIENT
  Age: 53 Year

DRUGS (1269)
  1. ESOMEPRAZOLE [Suspect]
     Active Substance: ESOMEPRAZOLE
     Indication: Product used for unknown indication
  2. ESOMEPRAZOLE [Suspect]
     Active Substance: ESOMEPRAZOLE
  3. ESOMEPRAZOLE [Suspect]
     Active Substance: ESOMEPRAZOLE
  4. ESOMEPRAZOLE [Suspect]
     Active Substance: ESOMEPRAZOLE
  5. ESOMEPRAZOLE [Suspect]
     Active Substance: ESOMEPRAZOLE
  6. ESOMEPRAZOLE [Suspect]
     Active Substance: ESOMEPRAZOLE
  7. ESOMEPRAZOLE [Suspect]
     Active Substance: ESOMEPRAZOLE
  8. ESOMEPRAZOLE [Suspect]
     Active Substance: ESOMEPRAZOLE
  9. ESOMEPRAZOLE [Suspect]
     Active Substance: ESOMEPRAZOLE
  10. ESOMEPRAZOLE [Suspect]
     Active Substance: ESOMEPRAZOLE
  11. ESOMEPRAZOLE [Suspect]
     Active Substance: ESOMEPRAZOLE
  12. ESOMEPRAZOLE [Suspect]
     Active Substance: ESOMEPRAZOLE
  13. ESOMEPRAZOLE [Suspect]
     Active Substance: ESOMEPRAZOLE
  14. ESOMEPRAZOLE [Suspect]
     Active Substance: ESOMEPRAZOLE
  15. ESOMEPRAZOLE [Suspect]
     Active Substance: ESOMEPRAZOLE
  16. ESOMEPRAZOLE [Suspect]
     Active Substance: ESOMEPRAZOLE
  17. ESOMEPRAZOLE [Suspect]
     Active Substance: ESOMEPRAZOLE
  18. ESOMEPRAZOLE [Suspect]
     Active Substance: ESOMEPRAZOLE
  19. ESOMEPRAZOLE [Suspect]
     Active Substance: ESOMEPRAZOLE
  20. ESOMEPRAZOLE [Suspect]
     Active Substance: ESOMEPRAZOLE
  21. ESOMEPRAZOLE [Suspect]
     Active Substance: ESOMEPRAZOLE
  22. ESOMEPRAZOLE [Suspect]
     Active Substance: ESOMEPRAZOLE
  23. ESOMEPRAZOLE [Suspect]
     Active Substance: ESOMEPRAZOLE
  24. ESOMEPRAZOLE [Suspect]
     Active Substance: ESOMEPRAZOLE
  25. ESOMEPRAZOLE [Suspect]
     Active Substance: ESOMEPRAZOLE
  26. ESOMEPRAZOLE [Suspect]
     Active Substance: ESOMEPRAZOLE
  27. ESOMEPRAZOLE [Suspect]
     Active Substance: ESOMEPRAZOLE
  28. ESOMEPRAZOLE [Suspect]
     Active Substance: ESOMEPRAZOLE
  29. ESOMEPRAZOLE [Suspect]
     Active Substance: ESOMEPRAZOLE
  30. ESOMEPRAZOLE [Suspect]
     Active Substance: ESOMEPRAZOLE
  31. ESOMEPRAZOLE [Suspect]
     Active Substance: ESOMEPRAZOLE
  32. ESOMEPRAZOLE [Suspect]
     Active Substance: ESOMEPRAZOLE
  33. ESOMEPRAZOLE [Suspect]
     Active Substance: ESOMEPRAZOLE
  34. ESOMEPRAZOLE [Suspect]
     Active Substance: ESOMEPRAZOLE
  35. ESOMEPRAZOLE [Suspect]
     Active Substance: ESOMEPRAZOLE
  36. ESOMEPRAZOLE [Suspect]
     Active Substance: ESOMEPRAZOLE
  37. ESOMEPRAZOLE [Suspect]
     Active Substance: ESOMEPRAZOLE
  38. ESOMEPRAZOLE [Suspect]
     Active Substance: ESOMEPRAZOLE
  39. ESOMEPRAZOLE [Suspect]
     Active Substance: ESOMEPRAZOLE
  40. ESOMEPRAZOLE [Suspect]
     Active Substance: ESOMEPRAZOLE
  41. ESOMEPRAZOLE [Suspect]
     Active Substance: ESOMEPRAZOLE
  42. ESOMEPRAZOLE [Suspect]
     Active Substance: ESOMEPRAZOLE
  43. ESOMEPRAZOLE [Suspect]
     Active Substance: ESOMEPRAZOLE
  44. ESOMEPRAZOLE [Suspect]
     Active Substance: ESOMEPRAZOLE
  45. ESOMEPRAZOLE [Suspect]
     Active Substance: ESOMEPRAZOLE
  46. ESOMEPRAZOLE [Suspect]
     Active Substance: ESOMEPRAZOLE
  47. ESOMEPRAZOLE [Suspect]
     Active Substance: ESOMEPRAZOLE
  48. ESOMEPRAZOLE [Suspect]
     Active Substance: ESOMEPRAZOLE
  49. ESOMEPRAZOLE [Suspect]
     Active Substance: ESOMEPRAZOLE
  50. ESOMEPRAZOLE [Suspect]
     Active Substance: ESOMEPRAZOLE
  51. NEXIUM [Suspect]
     Active Substance: ESOMEPRAZOLE MAGNESIUM
  52. NEXIUM [Suspect]
     Active Substance: ESOMEPRAZOLE MAGNESIUM
     Route: 065
  53. PROPRANOLOL HYDROCHLORIDE [Suspect]
     Active Substance: PROPRANOLOL HYDROCHLORIDE
     Indication: Migraine
     Route: 065
  54. PROPRANOLOL HYDROCHLORIDE [Suspect]
     Active Substance: PROPRANOLOL HYDROCHLORIDE
     Indication: Product used for unknown indication
     Route: 065
  55. PROPRANOLOL HYDROCHLORIDE [Suspect]
     Active Substance: PROPRANOLOL HYDROCHLORIDE
     Route: 065
  56. PROPRANOLOL HYDROCHLORIDE [Suspect]
     Active Substance: PROPRANOLOL HYDROCHLORIDE
     Route: 065
  57. PROPRANOLOL HYDROCHLORIDE [Suspect]
     Active Substance: PROPRANOLOL HYDROCHLORIDE
     Route: 065
  58. PROPRANOLOL HYDROCHLORIDE [Suspect]
     Active Substance: PROPRANOLOL HYDROCHLORIDE
     Route: 065
  59. PROPRANOLOL HYDROCHLORIDE [Suspect]
     Active Substance: PROPRANOLOL HYDROCHLORIDE
     Route: 065
  60. ADVIL [Suspect]
     Active Substance: IBUPROFEN
     Indication: Product used for unknown indication
     Route: 065
  61. PANADOL [Suspect]
     Active Substance: ACETAMINOPHEN
     Indication: Product used for unknown indication
     Route: 065
  62. PANADOL [Suspect]
     Active Substance: ACETAMINOPHEN
     Indication: Migraine
     Route: 065
  63. PANADOL [Suspect]
     Active Substance: ACETAMINOPHEN
     Route: 065
  64. PANADOL [Suspect]
     Active Substance: ACETAMINOPHEN
     Route: 065
  65. PANADOL [Suspect]
     Active Substance: ACETAMINOPHEN
     Route: 065
  66. PANADOL [Suspect]
     Active Substance: ACETAMINOPHEN
     Route: 065
  67. PANADOL [Suspect]
     Active Substance: ACETAMINOPHEN
     Route: 065
  68. PANADOL [Suspect]
     Active Substance: ACETAMINOPHEN
     Route: 065
  69. PANADOL [Suspect]
     Active Substance: ACETAMINOPHEN
     Route: 065
  70. PANADOL [Suspect]
     Active Substance: ACETAMINOPHEN
     Route: 065
  71. PANADOL [Suspect]
     Active Substance: ACETAMINOPHEN
     Route: 065
  72. PANADOL [Suspect]
     Active Substance: ACETAMINOPHEN
     Route: 065
  73. PANADOL [Suspect]
     Active Substance: ACETAMINOPHEN
     Route: 065
  74. PANADOL [Suspect]
     Active Substance: ACETAMINOPHEN
     Route: 065
  75. PANADOL [Suspect]
     Active Substance: ACETAMINOPHEN
     Route: 065
  76. CELEBREX [Suspect]
     Active Substance: CELECOXIB
     Indication: Product used for unknown indication
     Route: 065
  77. CELEBREX [Suspect]
     Active Substance: CELECOXIB
     Route: 065
  78. VOLTAREN [Suspect]
     Active Substance: DICLOFENAC SODIUM
     Indication: Arthralgia
     Route: 065
  79. VOLTAREN [Suspect]
     Active Substance: DICLOFENAC SODIUM
     Indication: Migraine
     Route: 065
  80. VOLTAREN [Suspect]
     Active Substance: DICLOFENAC SODIUM
     Route: 065
  81. VOLTAREN [Suspect]
     Active Substance: DICLOFENAC SODIUM
     Route: 065
  82. MAXALT [Suspect]
     Active Substance: RIZATRIPTAN BENZOATE
     Indication: Product used for unknown indication
     Route: 065
  83. MAXALT [Suspect]
     Active Substance: RIZATRIPTAN BENZOATE
     Route: 065
  84. DEMEROL [Suspect]
     Active Substance: MEPERIDINE HYDROCHLORIDE
     Indication: Product used for unknown indication
     Route: 065
  85. DEMEROL [Suspect]
     Active Substance: MEPERIDINE HYDROCHLORIDE
     Route: 065
  86. DEMEROL [Suspect]
     Active Substance: MEPERIDINE HYDROCHLORIDE
     Route: 065
  87. DEMEROL [Suspect]
     Active Substance: MEPERIDINE HYDROCHLORIDE
     Route: 065
  88. DEMEROL [Suspect]
     Active Substance: MEPERIDINE HYDROCHLORIDE
     Route: 065
  89. DEMEROL [Suspect]
     Active Substance: MEPERIDINE HYDROCHLORIDE
     Route: 065
  90. DEMEROL [Suspect]
     Active Substance: MEPERIDINE HYDROCHLORIDE
     Route: 065
  91. DEMEROL [Suspect]
     Active Substance: MEPERIDINE HYDROCHLORIDE
     Route: 065
  92. DEMEROL [Suspect]
     Active Substance: MEPERIDINE HYDROCHLORIDE
     Route: 065
  93. DEMEROL [Suspect]
     Active Substance: MEPERIDINE HYDROCHLORIDE
     Route: 065
  94. DEMEROL [Suspect]
     Active Substance: MEPERIDINE HYDROCHLORIDE
     Route: 065
  95. DEMEROL [Suspect]
     Active Substance: MEPERIDINE HYDROCHLORIDE
     Route: 065
  96. DEMEROL [Suspect]
     Active Substance: MEPERIDINE HYDROCHLORIDE
     Route: 065
  97. DEMEROL [Suspect]
     Active Substance: MEPERIDINE HYDROCHLORIDE
     Route: 065
  98. DEMEROL [Suspect]
     Active Substance: MEPERIDINE HYDROCHLORIDE
     Route: 065
  99. DEMEROL [Suspect]
     Active Substance: MEPERIDINE HYDROCHLORIDE
     Route: 065
  100. DEMEROL [Suspect]
     Active Substance: MEPERIDINE HYDROCHLORIDE
     Route: 065
  101. DEMEROL [Suspect]
     Active Substance: MEPERIDINE HYDROCHLORIDE
     Route: 065
  102. DEMEROL [Suspect]
     Active Substance: MEPERIDINE HYDROCHLORIDE
     Route: 065
  103. DEMEROL [Suspect]
     Active Substance: MEPERIDINE HYDROCHLORIDE
     Route: 065
  104. DEMEROL [Suspect]
     Active Substance: MEPERIDINE HYDROCHLORIDE
     Route: 065
  105. DEMEROL [Suspect]
     Active Substance: MEPERIDINE HYDROCHLORIDE
     Route: 065
  106. DEMEROL [Suspect]
     Active Substance: MEPERIDINE HYDROCHLORIDE
     Route: 065
  107. DEMEROL [Suspect]
     Active Substance: MEPERIDINE HYDROCHLORIDE
     Route: 065
  108. DEMEROL [Suspect]
     Active Substance: MEPERIDINE HYDROCHLORIDE
     Route: 065
  109. DEMEROL [Suspect]
     Active Substance: MEPERIDINE HYDROCHLORIDE
     Route: 065
  110. DEMEROL [Suspect]
     Active Substance: MEPERIDINE HYDROCHLORIDE
     Route: 065
  111. DEMEROL [Suspect]
     Active Substance: MEPERIDINE HYDROCHLORIDE
     Route: 065
  112. DEMEROL [Suspect]
     Active Substance: MEPERIDINE HYDROCHLORIDE
     Route: 065
  113. DEMEROL [Suspect]
     Active Substance: MEPERIDINE HYDROCHLORIDE
     Route: 065
  114. DEMEROL [Suspect]
     Active Substance: MEPERIDINE HYDROCHLORIDE
     Route: 065
  115. DEMEROL [Suspect]
     Active Substance: MEPERIDINE HYDROCHLORIDE
     Route: 065
  116. AMITRIPTYLINE [Suspect]
     Active Substance: AMITRIPTYLINE
     Indication: Product used for unknown indication
     Route: 065
  117. AMITRIPTYLINE [Suspect]
     Active Substance: AMITRIPTYLINE
     Route: 065
  118. AMITRIPTYLINE [Suspect]
     Active Substance: AMITRIPTYLINE
     Route: 065
  119. AMITRIPTYLINE [Suspect]
     Active Substance: AMITRIPTYLINE
     Route: 065
  120. AMITRIPTYLINE [Suspect]
     Active Substance: AMITRIPTYLINE
     Route: 065
  121. AMITRIPTYLINE [Suspect]
     Active Substance: AMITRIPTYLINE
     Route: 065
  122. AMITRIPTYLINE [Suspect]
     Active Substance: AMITRIPTYLINE
     Route: 065
  123. AMITRIPTYLINE [Suspect]
     Active Substance: AMITRIPTYLINE
     Route: 065
  124. AMITRIPTYLINE [Suspect]
     Active Substance: AMITRIPTYLINE
     Route: 065
  125. AMITRIPTYLINE [Suspect]
     Active Substance: AMITRIPTYLINE
     Route: 065
  126. AMITRIPTYLINE [Suspect]
     Active Substance: AMITRIPTYLINE
     Route: 065
  127. AMITRIPTYLINE [Suspect]
     Active Substance: AMITRIPTYLINE
     Route: 065
  128. AMITRIPTYLINE [Suspect]
     Active Substance: AMITRIPTYLINE
     Route: 065
  129. AMITRIPTYLINE [Suspect]
     Active Substance: AMITRIPTYLINE
     Route: 065
  130. AMITRIPTYLINE [Suspect]
     Active Substance: AMITRIPTYLINE
     Route: 065
  131. AMITRIPTYLINE [Suspect]
     Active Substance: AMITRIPTYLINE
     Route: 065
  132. AMITRIPTYLINE [Suspect]
     Active Substance: AMITRIPTYLINE
     Route: 065
  133. AMITRIPTYLINE [Suspect]
     Active Substance: AMITRIPTYLINE
     Route: 065
  134. MORPHINE SULFATE [Suspect]
     Active Substance: MORPHINE SULFATE
     Indication: Migraine
     Route: 065
  135. MORPHINE SULFATE [Suspect]
     Active Substance: MORPHINE SULFATE
     Route: 065
  136. MORPHINE SULFATE [Suspect]
     Active Substance: MORPHINE SULFATE
     Route: 065
  137. MORPHINE SULFATE [Suspect]
     Active Substance: MORPHINE SULFATE
     Route: 065
  138. MORPHINE SULFATE [Suspect]
     Active Substance: MORPHINE SULFATE
     Route: 065
  139. MORPHINE SULFATE [Suspect]
     Active Substance: MORPHINE SULFATE
     Route: 065
  140. NAPROXEN [Suspect]
     Active Substance: NAPROXEN
     Indication: Product used for unknown indication
  141. NAPROXEN [Suspect]
     Active Substance: NAPROXEN
     Route: 065
  142. NAPROXEN [Suspect]
     Active Substance: NAPROXEN
     Route: 065
  143. NAPROXEN [Suspect]
     Active Substance: NAPROXEN
     Route: 065
  144. NAPROXEN [Suspect]
     Active Substance: NAPROXEN
     Route: 065
  145. NAPROXEN [Suspect]
     Active Substance: NAPROXEN
     Route: 065
  146. NAPROXEN [Suspect]
     Active Substance: NAPROXEN
     Route: 065
  147. NAPROXEN [Suspect]
     Active Substance: NAPROXEN
     Route: 065
  148. NAPROXEN [Suspect]
     Active Substance: NAPROXEN
     Route: 065
  149. NAPROXEN [Suspect]
     Active Substance: NAPROXEN
     Route: 065
  150. NAPROXEN [Suspect]
     Active Substance: NAPROXEN
     Route: 065
  151. NAPROXEN [Suspect]
     Active Substance: NAPROXEN
     Route: 065
  152. NAPROXEN [Suspect]
     Active Substance: NAPROXEN
     Route: 065
  153. NAPROXEN [Suspect]
     Active Substance: NAPROXEN
  154. NAPROXEN [Suspect]
     Active Substance: NAPROXEN
     Route: 065
  155. NAPROXEN [Suspect]
     Active Substance: NAPROXEN
     Route: 065
  156. BOTOX [Suspect]
     Active Substance: ONABOTULINUMTOXINA
     Indication: Product used for unknown indication
     Route: 065
  157. BOTOX [Suspect]
     Active Substance: ONABOTULINUMTOXINA
     Route: 065
  158. BOTOX [Suspect]
     Active Substance: ONABOTULINUMTOXINA
     Route: 065
  159. BOTOX [Suspect]
     Active Substance: ONABOTULINUMTOXINA
     Route: 065
  160. BOTOX [Suspect]
     Active Substance: ONABOTULINUMTOXINA
     Route: 065
  161. BOTOX [Suspect]
     Active Substance: ONABOTULINUMTOXINA
     Route: 065
  162. BOTOX [Suspect]
     Active Substance: ONABOTULINUMTOXINA
     Route: 065
  163. BOTOX [Suspect]
     Active Substance: ONABOTULINUMTOXINA
     Route: 065
  164. BOTOX [Suspect]
     Active Substance: ONABOTULINUMTOXINA
     Route: 065
  165. BOTOX [Suspect]
     Active Substance: ONABOTULINUMTOXINA
     Route: 065
  166. BOTOX [Suspect]
     Active Substance: ONABOTULINUMTOXINA
     Route: 065
  167. BOTOX [Suspect]
     Active Substance: ONABOTULINUMTOXINA
     Route: 065
  168. BOTOX [Suspect]
     Active Substance: ONABOTULINUMTOXINA
     Route: 065
  169. BOTOX [Suspect]
     Active Substance: ONABOTULINUMTOXINA
     Route: 065
  170. BOTOX [Suspect]
     Active Substance: ONABOTULINUMTOXINA
     Route: 065
  171. BOTOX [Suspect]
     Active Substance: ONABOTULINUMTOXINA
     Route: 065
  172. BOTOX [Suspect]
     Active Substance: ONABOTULINUMTOXINA
     Route: 065
  173. BOTOX [Suspect]
     Active Substance: ONABOTULINUMTOXINA
     Route: 065
  174. BOTOX [Suspect]
     Active Substance: ONABOTULINUMTOXINA
     Route: 065
  175. BOTOX [Suspect]
     Active Substance: ONABOTULINUMTOXINA
     Route: 065
  176. BOTOX [Suspect]
     Active Substance: ONABOTULINUMTOXINA
     Route: 065
  177. BOTOX [Suspect]
     Active Substance: ONABOTULINUMTOXINA
     Route: 065
  178. BOTOX [Suspect]
     Active Substance: ONABOTULINUMTOXINA
     Route: 065
  179. BOTOX [Suspect]
     Active Substance: ONABOTULINUMTOXINA
     Route: 065
  180. BOTOX [Suspect]
     Active Substance: ONABOTULINUMTOXINA
     Route: 065
  181. BOTOX [Suspect]
     Active Substance: ONABOTULINUMTOXINA
     Route: 065
  182. BOTOX [Suspect]
     Active Substance: ONABOTULINUMTOXINA
     Route: 065
  183. BOTOX [Suspect]
     Active Substance: ONABOTULINUMTOXINA
     Route: 065
  184. BOTOX [Suspect]
     Active Substance: ONABOTULINUMTOXINA
     Route: 065
  185. BOTOX [Suspect]
     Active Substance: ONABOTULINUMTOXINA
     Route: 065
  186. BOTOX [Suspect]
     Active Substance: ONABOTULINUMTOXINA
     Route: 065
  187. BOTOX [Suspect]
     Active Substance: ONABOTULINUMTOXINA
     Route: 065
  188. BOTOX [Suspect]
     Active Substance: ONABOTULINUMTOXINA
     Route: 065
  189. BOTOX [Suspect]
     Active Substance: ONABOTULINUMTOXINA
     Route: 065
  190. BOTOX [Suspect]
     Active Substance: ONABOTULINUMTOXINA
     Route: 065
  191. BOTOX [Suspect]
     Active Substance: ONABOTULINUMTOXINA
     Route: 065
  192. BOTOX [Suspect]
     Active Substance: ONABOTULINUMTOXINA
     Route: 065
  193. BOTOX [Suspect]
     Active Substance: ONABOTULINUMTOXINA
     Route: 065
  194. BOTOX [Suspect]
     Active Substance: ONABOTULINUMTOXINA
     Route: 065
  195. BOTOX [Suspect]
     Active Substance: ONABOTULINUMTOXINA
     Route: 065
  196. BOTOX [Suspect]
     Active Substance: ONABOTULINUMTOXINA
     Route: 065
  197. BOTOX [Suspect]
     Active Substance: ONABOTULINUMTOXINA
     Route: 065
  198. BOTOX [Suspect]
     Active Substance: ONABOTULINUMTOXINA
     Route: 065
  199. BOTOX [Suspect]
     Active Substance: ONABOTULINUMTOXINA
     Route: 065
  200. BOTOX [Suspect]
     Active Substance: ONABOTULINUMTOXINA
     Route: 065
  201. BOTOX [Suspect]
     Active Substance: ONABOTULINUMTOXINA
     Route: 065
  202. BOTOX [Suspect]
     Active Substance: ONABOTULINUMTOXINA
     Route: 065
  203. BOTOX [Suspect]
     Active Substance: ONABOTULINUMTOXINA
     Route: 065
  204. BOTOX [Suspect]
     Active Substance: ONABOTULINUMTOXINA
  205. BOTOX [Suspect]
     Active Substance: ONABOTULINUMTOXINA
     Route: 065
  206. BOTOX [Suspect]
     Active Substance: ONABOTULINUMTOXINA
     Route: 065
  207. BOTOX [Suspect]
     Active Substance: ONABOTULINUMTOXINA
     Route: 065
  208. BOTOX [Suspect]
     Active Substance: ONABOTULINUMTOXINA
     Route: 065
  209. BOTOX [Suspect]
     Active Substance: ONABOTULINUMTOXINA
     Route: 065
  210. BOTOX [Suspect]
     Active Substance: ONABOTULINUMTOXINA
     Route: 065
  211. BOTOX [Suspect]
     Active Substance: ONABOTULINUMTOXINA
     Route: 065
  212. BOTOX [Suspect]
     Active Substance: ONABOTULINUMTOXINA
     Route: 065
  213. BOTOX [Suspect]
     Active Substance: ONABOTULINUMTOXINA
     Route: 065
  214. BOTOX [Suspect]
     Active Substance: ONABOTULINUMTOXINA
     Route: 065
  215. BOTOX [Suspect]
     Active Substance: ONABOTULINUMTOXINA
     Route: 065
  216. BOTOX [Suspect]
     Active Substance: ONABOTULINUMTOXINA
     Route: 065
  217. BOTOX [Suspect]
     Active Substance: ONABOTULINUMTOXINA
     Route: 065
  218. BOTOX [Suspect]
     Active Substance: ONABOTULINUMTOXINA
     Route: 065
  219. BOTOX [Suspect]
     Active Substance: ONABOTULINUMTOXINA
     Route: 065
  220. BOTOX [Suspect]
     Active Substance: ONABOTULINUMTOXINA
     Route: 065
  221. BOTOX [Suspect]
     Active Substance: ONABOTULINUMTOXINA
     Route: 065
  222. BOTOX [Suspect]
     Active Substance: ONABOTULINUMTOXINA
     Route: 065
  223. BOTOX [Suspect]
     Active Substance: ONABOTULINUMTOXINA
     Route: 065
  224. BOTOX [Suspect]
     Active Substance: ONABOTULINUMTOXINA
     Route: 065
  225. BOTOX [Suspect]
     Active Substance: ONABOTULINUMTOXINA
     Route: 065
  226. BOTOX [Suspect]
     Active Substance: ONABOTULINUMTOXINA
     Route: 065
  227. BOTOX [Suspect]
     Active Substance: ONABOTULINUMTOXINA
     Route: 065
  228. BOTOX [Suspect]
     Active Substance: ONABOTULINUMTOXINA
     Route: 065
  229. BOTOX [Suspect]
     Active Substance: ONABOTULINUMTOXINA
     Route: 065
  230. BOTOX [Suspect]
     Active Substance: ONABOTULINUMTOXINA
     Route: 065
  231. BOTOX [Suspect]
     Active Substance: ONABOTULINUMTOXINA
     Route: 065
  232. BOTOX [Suspect]
     Active Substance: ONABOTULINUMTOXINA
     Route: 065
  233. BOTOX [Suspect]
     Active Substance: ONABOTULINUMTOXINA
     Route: 065
  234. BOTOX [Suspect]
     Active Substance: ONABOTULINUMTOXINA
     Route: 065
  235. BOTOX [Suspect]
     Active Substance: ONABOTULINUMTOXINA
     Route: 065
  236. BOTOX [Suspect]
     Active Substance: ONABOTULINUMTOXINA
     Route: 065
  237. BOTOX [Suspect]
     Active Substance: ONABOTULINUMTOXINA
     Route: 065
  238. BOTOX [Suspect]
     Active Substance: ONABOTULINUMTOXINA
     Route: 065
  239. BOTOX [Suspect]
     Active Substance: ONABOTULINUMTOXINA
     Route: 065
  240. BOTOX [Suspect]
     Active Substance: ONABOTULINUMTOXINA
     Route: 065
  241. BOTOX [Suspect]
     Active Substance: ONABOTULINUMTOXINA
     Route: 065
  242. BOTOX [Suspect]
     Active Substance: ONABOTULINUMTOXINA
     Route: 065
  243. BOTOX [Suspect]
     Active Substance: ONABOTULINUMTOXINA
     Route: 065
  244. BOTOX [Suspect]
     Active Substance: ONABOTULINUMTOXINA
     Route: 065
  245. BOTOX [Suspect]
     Active Substance: ONABOTULINUMTOXINA
     Route: 065
  246. BOTOX [Suspect]
     Active Substance: ONABOTULINUMTOXINA
     Route: 065
  247. BOTOX [Suspect]
     Active Substance: ONABOTULINUMTOXINA
     Route: 065
  248. BOTOX [Suspect]
     Active Substance: ONABOTULINUMTOXINA
     Route: 065
  249. BOTOX [Suspect]
     Active Substance: ONABOTULINUMTOXINA
     Route: 065
  250. BOTOX [Suspect]
     Active Substance: ONABOTULINUMTOXINA
     Route: 065
  251. BOTOX [Suspect]
     Active Substance: ONABOTULINUMTOXINA
     Route: 065
  252. BOTOX [Suspect]
     Active Substance: ONABOTULINUMTOXINA
     Route: 065
  253. BOTOX [Suspect]
     Active Substance: ONABOTULINUMTOXINA
     Route: 065
  254. BOTOX [Suspect]
     Active Substance: ONABOTULINUMTOXINA
     Route: 065
  255. BOTOX [Suspect]
     Active Substance: ONABOTULINUMTOXINA
  256. BOTOX [Suspect]
     Active Substance: ONABOTULINUMTOXINA
  257. BOTOX [Suspect]
     Active Substance: ONABOTULINUMTOXINA
  258. BOTOX [Suspect]
     Active Substance: ONABOTULINUMTOXINA
  259. BOTOX [Suspect]
     Active Substance: ONABOTULINUMTOXINA
  260. BOTOX [Suspect]
     Active Substance: ONABOTULINUMTOXINA
  261. BOTOX [Suspect]
     Active Substance: ONABOTULINUMTOXINA
  262. BOTOX [Suspect]
     Active Substance: ONABOTULINUMTOXINA
  263. BOTOX [Suspect]
     Active Substance: ONABOTULINUMTOXINA
  264. BOTOX [Suspect]
     Active Substance: ONABOTULINUMTOXINA
  265. BOTOX [Suspect]
     Active Substance: ONABOTULINUMTOXINA
  266. BOTOX [Suspect]
     Active Substance: ONABOTULINUMTOXINA
  267. BOTOX [Suspect]
     Active Substance: ONABOTULINUMTOXINA
  268. BOTOX [Suspect]
     Active Substance: ONABOTULINUMTOXINA
  269. BOTOX [Suspect]
     Active Substance: ONABOTULINUMTOXINA
  270. BOTOX [Suspect]
     Active Substance: ONABOTULINUMTOXINA
  271. BOTOX [Suspect]
     Active Substance: ONABOTULINUMTOXINA
  272. BOTOX [Suspect]
     Active Substance: ONABOTULINUMTOXINA
  273. BOTOX [Suspect]
     Active Substance: ONABOTULINUMTOXINA
  274. BOTOX [Suspect]
     Active Substance: ONABOTULINUMTOXINA
  275. BOTOX [Suspect]
     Active Substance: ONABOTULINUMTOXINA
  276. BOTOX [Suspect]
     Active Substance: ONABOTULINUMTOXINA
  277. BOTOX [Suspect]
     Active Substance: ONABOTULINUMTOXINA
  278. BOTOX [Suspect]
     Active Substance: ONABOTULINUMTOXINA
  279. BOTOX [Suspect]
     Active Substance: ONABOTULINUMTOXINA
  280. BOTOX [Suspect]
     Active Substance: ONABOTULINUMTOXINA
  281. BOTOX [Suspect]
     Active Substance: ONABOTULINUMTOXINA
  282. BOTOX [Suspect]
     Active Substance: ONABOTULINUMTOXINA
  283. BOTOX [Suspect]
     Active Substance: ONABOTULINUMTOXINA
  284. BOTOX [Suspect]
     Active Substance: ONABOTULINUMTOXINA
  285. BOTOX [Suspect]
     Active Substance: ONABOTULINUMTOXINA
  286. BOTOX [Suspect]
     Active Substance: ONABOTULINUMTOXINA
  287. BOTOX [Suspect]
     Active Substance: ONABOTULINUMTOXINA
  288. BOTOX [Suspect]
     Active Substance: ONABOTULINUMTOXINA
  289. BOTOX [Suspect]
     Active Substance: ONABOTULINUMTOXINA
  290. BOTOX [Suspect]
     Active Substance: ONABOTULINUMTOXINA
  291. BOTOX [Suspect]
     Active Substance: ONABOTULINUMTOXINA
  292. BOTOX [Suspect]
     Active Substance: ONABOTULINUMTOXINA
  293. BOTOX [Suspect]
     Active Substance: ONABOTULINUMTOXINA
  294. BOTOX [Suspect]
     Active Substance: ONABOTULINUMTOXINA
  295. BOTOX [Suspect]
     Active Substance: ONABOTULINUMTOXINA
  296. BOTOX [Suspect]
     Active Substance: ONABOTULINUMTOXINA
  297. BOTOX [Suspect]
     Active Substance: ONABOTULINUMTOXINA
  298. BOTOX [Suspect]
     Active Substance: ONABOTULINUMTOXINA
  299. BOTOX [Suspect]
     Active Substance: ONABOTULINUMTOXINA
  300. BOTOX [Suspect]
     Active Substance: ONABOTULINUMTOXINA
  301. BOTOX [Suspect]
     Active Substance: ONABOTULINUMTOXINA
  302. BOTOX [Suspect]
     Active Substance: ONABOTULINUMTOXINA
  303. BOTOX [Suspect]
     Active Substance: ONABOTULINUMTOXINA
  304. BOTOX [Suspect]
     Active Substance: ONABOTULINUMTOXINA
  305. BOTOX [Suspect]
     Active Substance: ONABOTULINUMTOXINA
  306. BOTOX [Suspect]
     Active Substance: ONABOTULINUMTOXINA
  307. BOTOX [Suspect]
     Active Substance: ONABOTULINUMTOXINA
  308. BOTOX [Suspect]
     Active Substance: ONABOTULINUMTOXINA
  309. BOTOX [Suspect]
     Active Substance: ONABOTULINUMTOXINA
  310. BOTOX [Suspect]
     Active Substance: ONABOTULINUMTOXINA
  311. BOTOX [Suspect]
     Active Substance: ONABOTULINUMTOXINA
  312. BOTOX [Suspect]
     Active Substance: ONABOTULINUMTOXINA
  313. BOTOX [Suspect]
     Active Substance: ONABOTULINUMTOXINA
  314. BOTOX [Suspect]
     Active Substance: ONABOTULINUMTOXINA
  315. BOTOX [Suspect]
     Active Substance: ONABOTULINUMTOXINA
  316. BOTOX [Suspect]
     Active Substance: ONABOTULINUMTOXINA
  317. BOTOX [Suspect]
     Active Substance: ONABOTULINUMTOXINA
  318. BOTOX [Suspect]
     Active Substance: ONABOTULINUMTOXINA
  319. BOTOX [Suspect]
     Active Substance: ONABOTULINUMTOXINA
  320. BOTOX [Suspect]
     Active Substance: ONABOTULINUMTOXINA
  321. BOTOX [Suspect]
     Active Substance: ONABOTULINUMTOXINA
  322. BOTOX [Suspect]
     Active Substance: ONABOTULINUMTOXINA
  323. BOTOX [Suspect]
     Active Substance: ONABOTULINUMTOXINA
  324. BOTOX [Suspect]
     Active Substance: ONABOTULINUMTOXINA
  325. BOTOX [Suspect]
     Active Substance: ONABOTULINUMTOXINA
  326. BOTOX [Suspect]
     Active Substance: ONABOTULINUMTOXINA
  327. BOTOX [Suspect]
     Active Substance: ONABOTULINUMTOXINA
  328. BOTOX [Suspect]
     Active Substance: ONABOTULINUMTOXINA
  329. BOTOX [Suspect]
     Active Substance: ONABOTULINUMTOXINA
  330. BOTOX [Suspect]
     Active Substance: ONABOTULINUMTOXINA
  331. BOTOX [Suspect]
     Active Substance: ONABOTULINUMTOXINA
  332. BOTOX [Suspect]
     Active Substance: ONABOTULINUMTOXINA
  333. BOTOX [Suspect]
     Active Substance: ONABOTULINUMTOXINA
  334. BOTOX [Suspect]
     Active Substance: ONABOTULINUMTOXINA
  335. BOTOX [Suspect]
     Active Substance: ONABOTULINUMTOXINA
  336. BOTOX [Suspect]
     Active Substance: ONABOTULINUMTOXINA
  337. BOTOX [Suspect]
     Active Substance: ONABOTULINUMTOXINA
  338. BOTOX [Suspect]
     Active Substance: ONABOTULINUMTOXINA
  339. BOTOX [Suspect]
     Active Substance: ONABOTULINUMTOXINA
  340. BOTOX [Suspect]
     Active Substance: ONABOTULINUMTOXINA
  341. BOTOX [Suspect]
     Active Substance: ONABOTULINUMTOXINA
  342. BOTOX [Suspect]
     Active Substance: ONABOTULINUMTOXINA
  343. BOTOX [Suspect]
     Active Substance: ONABOTULINUMTOXINA
  344. BOTOX [Suspect]
     Active Substance: ONABOTULINUMTOXINA
  345. BOTOX [Suspect]
     Active Substance: ONABOTULINUMTOXINA
  346. BOTOX [Suspect]
     Active Substance: ONABOTULINUMTOXINA
  347. BOTOX [Suspect]
     Active Substance: ONABOTULINUMTOXINA
  348. BOTOX [Suspect]
     Active Substance: ONABOTULINUMTOXINA
  349. BOTOX [Suspect]
     Active Substance: ONABOTULINUMTOXINA
  350. BOTOX [Suspect]
     Active Substance: ONABOTULINUMTOXINA
  351. BOTOX [Suspect]
     Active Substance: ONABOTULINUMTOXINA
  352. BOTOX [Suspect]
     Active Substance: ONABOTULINUMTOXINA
  353. BOTOX [Suspect]
     Active Substance: ONABOTULINUMTOXINA
  354. BOTOX [Suspect]
     Active Substance: ONABOTULINUMTOXINA
  355. DIHYDROERGOTAMINE MESYLATE [Suspect]
     Active Substance: DIHYDROERGOTAMINE MESYLATE
     Indication: Migraine
     Route: 065
  356. DIHYDROERGOTAMINE MESYLATE [Suspect]
     Active Substance: DIHYDROERGOTAMINE MESYLATE
     Route: 065
  357. DIHYDROERGOTAMINE MESYLATE [Suspect]
     Active Substance: DIHYDROERGOTAMINE MESYLATE
     Route: 065
  358. TRIAMCINOLONE ACETONIDE [Suspect]
     Active Substance: TRIAMCINOLONE ACETONIDE
     Indication: Migraine
     Route: 065
  359. TRIAMCINOLONE ACETONIDE [Suspect]
     Active Substance: TRIAMCINOLONE ACETONIDE
     Route: 065
  360. TRIAMCINOLONE ACETONIDE [Suspect]
     Active Substance: TRIAMCINOLONE ACETONIDE
     Route: 065
  361. TRIAMCINOLONE ACETONIDE [Suspect]
     Active Substance: TRIAMCINOLONE ACETONIDE
  362. IBUPROFEN [Suspect]
     Active Substance: IBUPROFEN
     Indication: Product used for unknown indication
     Route: 065
  363. IBUPROFEN [Suspect]
     Active Substance: IBUPROFEN
     Route: 065
  364. IBUPROFEN [Suspect]
     Active Substance: IBUPROFEN
     Route: 065
  365. IBUPROFEN [Suspect]
     Active Substance: IBUPROFEN
     Route: 065
  366. TOPIRAMATE [Suspect]
     Active Substance: TOPIRAMATE
     Indication: Migraine
     Route: 065
  367. TOPIRAMATE [Suspect]
     Active Substance: TOPIRAMATE
     Route: 065
  368. TOPIRAMATE [Suspect]
     Active Substance: TOPIRAMATE
  369. TOPIRAMATE [Suspect]
     Active Substance: TOPIRAMATE
     Route: 065
  370. TOPIRAMATE [Suspect]
     Active Substance: TOPIRAMATE
     Route: 065
  371. TOPIRAMATE [Suspect]
     Active Substance: TOPIRAMATE
     Route: 065
  372. TOPIRAMATE [Suspect]
     Active Substance: TOPIRAMATE
     Route: 065
  373. TOPIRAMATE [Suspect]
     Active Substance: TOPIRAMATE
     Route: 065
  374. TOPIRAMATE [Suspect]
     Active Substance: TOPIRAMATE
     Route: 065
  375. TOPIRAMATE [Suspect]
     Active Substance: TOPIRAMATE
     Route: 065
  376. TOPIRAMATE [Suspect]
     Active Substance: TOPIRAMATE
     Route: 065
  377. TOPIRAMATE [Suspect]
     Active Substance: TOPIRAMATE
     Route: 065
  378. TOPIRAMATE [Suspect]
     Active Substance: TOPIRAMATE
     Route: 065
  379. TOPIRAMATE [Suspect]
     Active Substance: TOPIRAMATE
  380. TOPIRAMATE [Suspect]
     Active Substance: TOPIRAMATE
     Route: 065
  381. TOPIRAMATE [Suspect]
     Active Substance: TOPIRAMATE
  382. TOPIRAMATE [Suspect]
     Active Substance: TOPIRAMATE
     Route: 065
  383. TOPIRAMATE [Suspect]
     Active Substance: TOPIRAMATE
     Route: 065
  384. TOPIRAMATE [Suspect]
     Active Substance: TOPIRAMATE
     Route: 065
  385. TOPIRAMATE [Suspect]
     Active Substance: TOPIRAMATE
     Route: 065
  386. HYDROMORPHONE [Suspect]
     Active Substance: HYDROMORPHONE
     Indication: Migraine
     Route: 065
  387. HYDROMORPHONE [Suspect]
     Active Substance: HYDROMORPHONE
     Indication: Product used for unknown indication
     Route: 065
  388. HYDROMORPHONE [Suspect]
     Active Substance: HYDROMORPHONE
     Route: 065
  389. HYDROMORPHONE [Suspect]
     Active Substance: HYDROMORPHONE
     Route: 065
  390. KETAMINE [Suspect]
     Active Substance: KETAMINE
     Indication: Migraine
     Route: 065
  391. KETAMINE [Suspect]
     Active Substance: KETAMINE
     Route: 065
  392. KETAMINE [Suspect]
     Active Substance: KETAMINE
     Route: 065
  393. KETAMINE [Suspect]
     Active Substance: KETAMINE
     Route: 065
  394. VIMOVO [Suspect]
     Active Substance: ESOMEPRAZOLE MAGNESIUM\NAPROXEN
     Indication: Product used for unknown indication
     Route: 065
  395. VIMOVO [Suspect]
     Active Substance: ESOMEPRAZOLE MAGNESIUM\NAPROXEN
     Route: 065
  396. VIMOVO [Suspect]
     Active Substance: ESOMEPRAZOLE MAGNESIUM\NAPROXEN
     Route: 065
  397. VIMOVO [Suspect]
     Active Substance: ESOMEPRAZOLE MAGNESIUM\NAPROXEN
     Route: 065
  398. VIMOVO [Suspect]
     Active Substance: ESOMEPRAZOLE MAGNESIUM\NAPROXEN
     Route: 065
  399. VIMOVO [Suspect]
     Active Substance: ESOMEPRAZOLE MAGNESIUM\NAPROXEN
     Route: 065
  400. VIMOVO [Suspect]
     Active Substance: ESOMEPRAZOLE MAGNESIUM\NAPROXEN
     Route: 065
  401. VIMOVO [Suspect]
     Active Substance: ESOMEPRAZOLE MAGNESIUM\NAPROXEN
     Route: 065
  402. VIMOVO [Suspect]
     Active Substance: ESOMEPRAZOLE MAGNESIUM\NAPROXEN
     Route: 065
  403. VIMOVO [Suspect]
     Active Substance: ESOMEPRAZOLE MAGNESIUM\NAPROXEN
     Route: 065
  404. VIMOVO [Suspect]
     Active Substance: ESOMEPRAZOLE MAGNESIUM\NAPROXEN
     Route: 065
  405. VIMOVO [Suspect]
     Active Substance: ESOMEPRAZOLE MAGNESIUM\NAPROXEN
     Route: 065
  406. VIMOVO [Suspect]
     Active Substance: ESOMEPRAZOLE MAGNESIUM\NAPROXEN
     Route: 065
  407. VIMOVO [Suspect]
     Active Substance: ESOMEPRAZOLE MAGNESIUM\NAPROXEN
     Route: 065
  408. VIMOVO [Suspect]
     Active Substance: ESOMEPRAZOLE MAGNESIUM\NAPROXEN
     Route: 065
  409. VIMOVO [Suspect]
     Active Substance: ESOMEPRAZOLE MAGNESIUM\NAPROXEN
     Route: 065
  410. VIMOVO [Suspect]
     Active Substance: ESOMEPRAZOLE MAGNESIUM\NAPROXEN
     Route: 065
  411. VIMOVO [Suspect]
     Active Substance: ESOMEPRAZOLE MAGNESIUM\NAPROXEN
     Route: 065
  412. VIMOVO [Suspect]
     Active Substance: ESOMEPRAZOLE MAGNESIUM\NAPROXEN
     Route: 065
  413. VIMOVO [Suspect]
     Active Substance: ESOMEPRAZOLE MAGNESIUM\NAPROXEN
     Route: 065
  414. VIMOVO [Suspect]
     Active Substance: ESOMEPRAZOLE MAGNESIUM\NAPROXEN
     Route: 065
  415. VIMOVO [Suspect]
     Active Substance: ESOMEPRAZOLE MAGNESIUM\NAPROXEN
     Route: 065
  416. VIMOVO [Suspect]
     Active Substance: ESOMEPRAZOLE MAGNESIUM\NAPROXEN
     Route: 065
  417. VIMOVO [Suspect]
     Active Substance: ESOMEPRAZOLE MAGNESIUM\NAPROXEN
     Route: 065
  418. VIMOVO [Suspect]
     Active Substance: ESOMEPRAZOLE MAGNESIUM\NAPROXEN
     Route: 065
  419. VIMOVO [Suspect]
     Active Substance: ESOMEPRAZOLE MAGNESIUM\NAPROXEN
     Route: 065
  420. VIMOVO [Suspect]
     Active Substance: ESOMEPRAZOLE MAGNESIUM\NAPROXEN
     Route: 065
  421. VIMOVO [Suspect]
     Active Substance: ESOMEPRAZOLE MAGNESIUM\NAPROXEN
     Route: 065
  422. VIMOVO [Suspect]
     Active Substance: ESOMEPRAZOLE MAGNESIUM\NAPROXEN
     Route: 065
  423. VIMOVO [Suspect]
     Active Substance: ESOMEPRAZOLE MAGNESIUM\NAPROXEN
     Route: 065
  424. VIMOVO [Suspect]
     Active Substance: ESOMEPRAZOLE MAGNESIUM\NAPROXEN
     Route: 065
  425. VIMOVO [Suspect]
     Active Substance: ESOMEPRAZOLE MAGNESIUM\NAPROXEN
     Route: 065
  426. VIMOVO [Suspect]
     Active Substance: ESOMEPRAZOLE MAGNESIUM\NAPROXEN
     Route: 065
  427. VIMOVO [Suspect]
     Active Substance: ESOMEPRAZOLE MAGNESIUM\NAPROXEN
     Route: 065
  428. VIMOVO [Suspect]
     Active Substance: ESOMEPRAZOLE MAGNESIUM\NAPROXEN
     Route: 065
  429. VIMOVO [Suspect]
     Active Substance: ESOMEPRAZOLE MAGNESIUM\NAPROXEN
     Route: 065
  430. VIMOVO [Suspect]
     Active Substance: ESOMEPRAZOLE MAGNESIUM\NAPROXEN
     Route: 065
  431. VIMOVO [Suspect]
     Active Substance: ESOMEPRAZOLE MAGNESIUM\NAPROXEN
     Route: 065
  432. VIMOVO [Suspect]
     Active Substance: ESOMEPRAZOLE MAGNESIUM\NAPROXEN
     Route: 065
  433. VIMOVO [Suspect]
     Active Substance: ESOMEPRAZOLE MAGNESIUM\NAPROXEN
     Route: 065
  434. VIMOVO [Suspect]
     Active Substance: ESOMEPRAZOLE MAGNESIUM\NAPROXEN
     Route: 065
  435. VIMOVO [Suspect]
     Active Substance: ESOMEPRAZOLE MAGNESIUM\NAPROXEN
     Route: 065
  436. VIMOVO [Suspect]
     Active Substance: ESOMEPRAZOLE MAGNESIUM\NAPROXEN
     Route: 065
  437. VIMOVO [Suspect]
     Active Substance: ESOMEPRAZOLE MAGNESIUM\NAPROXEN
     Route: 065
  438. VIMOVO [Suspect]
     Active Substance: ESOMEPRAZOLE MAGNESIUM\NAPROXEN
     Route: 065
  439. VIMOVO [Suspect]
     Active Substance: ESOMEPRAZOLE MAGNESIUM\NAPROXEN
     Route: 065
  440. VIMOVO [Suspect]
     Active Substance: ESOMEPRAZOLE MAGNESIUM\NAPROXEN
     Route: 065
  441. VIMOVO [Suspect]
     Active Substance: ESOMEPRAZOLE MAGNESIUM\NAPROXEN
     Route: 065
  442. VIMOVO [Suspect]
     Active Substance: ESOMEPRAZOLE MAGNESIUM\NAPROXEN
     Route: 065
  443. VIMOVO [Suspect]
     Active Substance: ESOMEPRAZOLE MAGNESIUM\NAPROXEN
  444. VIMOVO [Suspect]
     Active Substance: ESOMEPRAZOLE MAGNESIUM\NAPROXEN
  445. VIMOVO [Suspect]
     Active Substance: ESOMEPRAZOLE MAGNESIUM\NAPROXEN
  446. VIMOVO [Suspect]
     Active Substance: ESOMEPRAZOLE MAGNESIUM\NAPROXEN
  447. VIMOVO [Suspect]
     Active Substance: ESOMEPRAZOLE MAGNESIUM\NAPROXEN
  448. VIMOVO [Suspect]
     Active Substance: ESOMEPRAZOLE MAGNESIUM\NAPROXEN
  449. VIMOVO [Suspect]
     Active Substance: ESOMEPRAZOLE MAGNESIUM\NAPROXEN
  450. VIMOVO [Suspect]
     Active Substance: ESOMEPRAZOLE MAGNESIUM\NAPROXEN
  451. VIMOVO [Suspect]
     Active Substance: ESOMEPRAZOLE MAGNESIUM\NAPROXEN
  452. VIMOVO [Suspect]
     Active Substance: ESOMEPRAZOLE MAGNESIUM\NAPROXEN
  453. VIMOVO [Suspect]
     Active Substance: ESOMEPRAZOLE MAGNESIUM\NAPROXEN
  454. VIMOVO [Suspect]
     Active Substance: ESOMEPRAZOLE MAGNESIUM\NAPROXEN
  455. VIMOVO [Suspect]
     Active Substance: ESOMEPRAZOLE MAGNESIUM\NAPROXEN
  456. VIMOVO [Suspect]
     Active Substance: ESOMEPRAZOLE MAGNESIUM\NAPROXEN
  457. VIMOVO [Suspect]
     Active Substance: ESOMEPRAZOLE MAGNESIUM\NAPROXEN
  458. VIMOVO [Suspect]
     Active Substance: ESOMEPRAZOLE MAGNESIUM\NAPROXEN
  459. VIMOVO [Suspect]
     Active Substance: ESOMEPRAZOLE MAGNESIUM\NAPROXEN
  460. VIMOVO [Suspect]
     Active Substance: ESOMEPRAZOLE MAGNESIUM\NAPROXEN
  461. VIMOVO [Suspect]
     Active Substance: ESOMEPRAZOLE MAGNESIUM\NAPROXEN
  462. VIMOVO [Suspect]
     Active Substance: ESOMEPRAZOLE MAGNESIUM\NAPROXEN
  463. VIMOVO [Suspect]
     Active Substance: ESOMEPRAZOLE MAGNESIUM\NAPROXEN
  464. VIMOVO [Suspect]
     Active Substance: ESOMEPRAZOLE MAGNESIUM\NAPROXEN
  465. VIMOVO [Suspect]
     Active Substance: ESOMEPRAZOLE MAGNESIUM\NAPROXEN
  466. VIMOVO [Suspect]
     Active Substance: ESOMEPRAZOLE MAGNESIUM\NAPROXEN
  467. VIMOVO [Suspect]
     Active Substance: ESOMEPRAZOLE MAGNESIUM\NAPROXEN
  468. VIMOVO [Suspect]
     Active Substance: ESOMEPRAZOLE MAGNESIUM\NAPROXEN
  469. VIMOVO [Suspect]
     Active Substance: ESOMEPRAZOLE MAGNESIUM\NAPROXEN
  470. VIMOVO [Suspect]
     Active Substance: ESOMEPRAZOLE MAGNESIUM\NAPROXEN
  471. VIMOVO [Suspect]
     Active Substance: ESOMEPRAZOLE MAGNESIUM\NAPROXEN
  472. VIMOVO [Suspect]
     Active Substance: ESOMEPRAZOLE MAGNESIUM\NAPROXEN
  473. VIMOVO [Suspect]
     Active Substance: ESOMEPRAZOLE MAGNESIUM\NAPROXEN
  474. VIMOVO [Suspect]
     Active Substance: ESOMEPRAZOLE MAGNESIUM\NAPROXEN
  475. VIMOVO [Suspect]
     Active Substance: ESOMEPRAZOLE MAGNESIUM\NAPROXEN
  476. VIMOVO [Suspect]
     Active Substance: ESOMEPRAZOLE MAGNESIUM\NAPROXEN
  477. VIMOVO [Suspect]
     Active Substance: ESOMEPRAZOLE MAGNESIUM\NAPROXEN
  478. VIMOVO [Suspect]
     Active Substance: ESOMEPRAZOLE MAGNESIUM\NAPROXEN
  479. VIMOVO [Suspect]
     Active Substance: ESOMEPRAZOLE MAGNESIUM\NAPROXEN
  480. VIMOVO [Suspect]
     Active Substance: ESOMEPRAZOLE MAGNESIUM\NAPROXEN
  481. VIMOVO [Suspect]
     Active Substance: ESOMEPRAZOLE MAGNESIUM\NAPROXEN
  482. VIMOVO [Suspect]
     Active Substance: ESOMEPRAZOLE MAGNESIUM\NAPROXEN
  483. VIMOVO [Suspect]
     Active Substance: ESOMEPRAZOLE MAGNESIUM\NAPROXEN
  484. VIMOVO [Suspect]
     Active Substance: ESOMEPRAZOLE MAGNESIUM\NAPROXEN
  485. VIMOVO [Suspect]
     Active Substance: ESOMEPRAZOLE MAGNESIUM\NAPROXEN
  486. VIMOVO [Suspect]
     Active Substance: ESOMEPRAZOLE MAGNESIUM\NAPROXEN
  487. VIMOVO [Suspect]
     Active Substance: ESOMEPRAZOLE MAGNESIUM\NAPROXEN
  488. VIMOVO [Suspect]
     Active Substance: ESOMEPRAZOLE MAGNESIUM\NAPROXEN
  489. VIMOVO [Suspect]
     Active Substance: ESOMEPRAZOLE MAGNESIUM\NAPROXEN
  490. TORADOL [Suspect]
     Active Substance: KETOROLAC TROMETHAMINE
     Indication: Migraine
     Route: 065
  491. TORADOL [Suspect]
     Active Substance: KETOROLAC TROMETHAMINE
     Route: 065
  492. TORADOL [Suspect]
     Active Substance: KETOROLAC TROMETHAMINE
     Route: 065
  493. TORADOL [Suspect]
     Active Substance: KETOROLAC TROMETHAMINE
     Route: 065
  494. NORTRIPTYLINE [Suspect]
     Active Substance: NORTRIPTYLINE
     Indication: Product used for unknown indication
     Route: 065
  495. ALMOTRIPTAN MALATE [Suspect]
     Active Substance: ALMOTRIPTAN MALATE
     Indication: Product used for unknown indication
     Route: 065
  496. ALMOTRIPTAN MALATE [Suspect]
     Active Substance: ALMOTRIPTAN MALATE
     Route: 065
  497. ALMOTRIPTAN MALATE [Suspect]
     Active Substance: ALMOTRIPTAN MALATE
     Route: 065
  498. ALMOTRIPTAN MALATE [Suspect]
     Active Substance: ALMOTRIPTAN MALATE
     Route: 065
  499. ALMOTRIPTAN MALATE [Suspect]
     Active Substance: ALMOTRIPTAN MALATE
     Route: 065
  500. ALMOTRIPTAN MALATE [Suspect]
     Active Substance: ALMOTRIPTAN MALATE
     Route: 065
  501. ALMOTRIPTAN MALATE [Suspect]
     Active Substance: ALMOTRIPTAN MALATE
     Route: 065
  502. ALMOTRIPTAN MALATE [Suspect]
     Active Substance: ALMOTRIPTAN MALATE
     Route: 065
  503. ALMOTRIPTAN MALATE [Suspect]
     Active Substance: ALMOTRIPTAN MALATE
     Route: 065
  504. ALMOTRIPTAN MALATE [Suspect]
     Active Substance: ALMOTRIPTAN MALATE
     Route: 065
  505. ALMOTRIPTAN MALATE [Suspect]
     Active Substance: ALMOTRIPTAN MALATE
     Route: 065
  506. ALMOTRIPTAN MALATE [Suspect]
     Active Substance: ALMOTRIPTAN MALATE
     Route: 065
  507. ALMOTRIPTAN MALATE [Suspect]
     Active Substance: ALMOTRIPTAN MALATE
     Route: 065
  508. ALMOTRIPTAN MALATE [Suspect]
     Active Substance: ALMOTRIPTAN MALATE
     Route: 065
  509. ALMOTRIPTAN MALATE [Suspect]
     Active Substance: ALMOTRIPTAN MALATE
     Route: 065
  510. ALMOTRIPTAN MALATE [Suspect]
     Active Substance: ALMOTRIPTAN MALATE
     Route: 065
  511. ALMOTRIPTAN MALATE [Suspect]
     Active Substance: ALMOTRIPTAN MALATE
     Route: 065
  512. ALMOTRIPTAN MALATE [Suspect]
     Active Substance: ALMOTRIPTAN MALATE
     Route: 065
  513. ALMOTRIPTAN MALATE [Suspect]
     Active Substance: ALMOTRIPTAN MALATE
     Route: 065
  514. ALMOTRIPTAN MALATE [Suspect]
     Active Substance: ALMOTRIPTAN MALATE
     Route: 065
  515. ALMOTRIPTAN MALATE [Suspect]
     Active Substance: ALMOTRIPTAN MALATE
     Route: 065
  516. ALMOTRIPTAN MALATE [Suspect]
     Active Substance: ALMOTRIPTAN MALATE
     Route: 065
  517. ALMOTRIPTAN MALATE [Suspect]
     Active Substance: ALMOTRIPTAN MALATE
     Route: 065
  518. ALMOTRIPTAN MALATE [Suspect]
     Active Substance: ALMOTRIPTAN MALATE
     Route: 065
  519. ALMOTRIPTAN MALATE [Suspect]
     Active Substance: ALMOTRIPTAN MALATE
     Route: 065
  520. ALMOTRIPTAN MALATE [Suspect]
     Active Substance: ALMOTRIPTAN MALATE
     Route: 065
  521. ALMOTRIPTAN MALATE [Suspect]
     Active Substance: ALMOTRIPTAN MALATE
     Route: 065
  522. ALMOTRIPTAN MALATE [Suspect]
     Active Substance: ALMOTRIPTAN MALATE
     Route: 065
  523. ALMOTRIPTAN MALATE [Suspect]
     Active Substance: ALMOTRIPTAN MALATE
     Route: 065
  524. ALMOTRIPTAN MALATE [Suspect]
     Active Substance: ALMOTRIPTAN MALATE
     Route: 065
  525. ALMOTRIPTAN MALATE [Suspect]
     Active Substance: ALMOTRIPTAN MALATE
     Route: 065
  526. ALMOTRIPTAN MALATE [Suspect]
     Active Substance: ALMOTRIPTAN MALATE
     Route: 065
  527. ALMOTRIPTAN MALATE [Suspect]
     Active Substance: ALMOTRIPTAN MALATE
     Route: 065
  528. ALMOTRIPTAN MALATE [Suspect]
     Active Substance: ALMOTRIPTAN MALATE
     Route: 065
  529. ALMOTRIPTAN MALATE [Suspect]
     Active Substance: ALMOTRIPTAN MALATE
     Route: 065
  530. ALMOTRIPTAN MALATE [Suspect]
     Active Substance: ALMOTRIPTAN MALATE
     Route: 065
  531. ALMOTRIPTAN MALATE [Suspect]
     Active Substance: ALMOTRIPTAN MALATE
     Route: 065
  532. ALMOTRIPTAN MALATE [Suspect]
     Active Substance: ALMOTRIPTAN MALATE
     Route: 065
  533. ALMOTRIPTAN MALATE [Suspect]
     Active Substance: ALMOTRIPTAN MALATE
     Route: 065
  534. ALMOTRIPTAN MALATE [Suspect]
     Active Substance: ALMOTRIPTAN MALATE
     Route: 065
  535. ALMOTRIPTAN MALATE [Suspect]
     Active Substance: ALMOTRIPTAN MALATE
     Route: 065
  536. ALMOTRIPTAN MALATE [Suspect]
     Active Substance: ALMOTRIPTAN MALATE
     Route: 065
  537. ALMOTRIPTAN MALATE [Suspect]
     Active Substance: ALMOTRIPTAN MALATE
     Route: 065
  538. ALMOTRIPTAN MALATE [Suspect]
     Active Substance: ALMOTRIPTAN MALATE
     Route: 065
  539. ALMOTRIPTAN MALATE [Suspect]
     Active Substance: ALMOTRIPTAN MALATE
     Route: 065
  540. ALMOTRIPTAN MALATE [Suspect]
     Active Substance: ALMOTRIPTAN MALATE
     Route: 065
  541. ALMOTRIPTAN MALATE [Suspect]
     Active Substance: ALMOTRIPTAN MALATE
     Route: 065
  542. ALMOTRIPTAN MALATE [Suspect]
     Active Substance: ALMOTRIPTAN MALATE
     Route: 065
  543. ALMOTRIPTAN MALATE [Suspect]
     Active Substance: ALMOTRIPTAN MALATE
     Route: 065
  544. ALMOTRIPTAN MALATE [Suspect]
     Active Substance: ALMOTRIPTAN MALATE
  545. ALMOTRIPTAN MALATE [Suspect]
     Active Substance: ALMOTRIPTAN MALATE
  546. ALMOTRIPTAN MALATE [Suspect]
     Active Substance: ALMOTRIPTAN MALATE
  547. ALMOTRIPTAN MALATE [Suspect]
     Active Substance: ALMOTRIPTAN MALATE
  548. ALMOTRIPTAN MALATE [Suspect]
     Active Substance: ALMOTRIPTAN MALATE
  549. ALMOTRIPTAN MALATE [Suspect]
     Active Substance: ALMOTRIPTAN MALATE
  550. ALMOTRIPTAN MALATE [Suspect]
     Active Substance: ALMOTRIPTAN MALATE
  551. ALMOTRIPTAN MALATE [Suspect]
     Active Substance: ALMOTRIPTAN MALATE
  552. ALMOTRIPTAN MALATE [Suspect]
     Active Substance: ALMOTRIPTAN MALATE
  553. ALMOTRIPTAN MALATE [Suspect]
     Active Substance: ALMOTRIPTAN MALATE
  554. ALMOTRIPTAN MALATE [Suspect]
     Active Substance: ALMOTRIPTAN MALATE
  555. ALMOTRIPTAN MALATE [Suspect]
     Active Substance: ALMOTRIPTAN MALATE
  556. ALMOTRIPTAN MALATE [Suspect]
     Active Substance: ALMOTRIPTAN MALATE
  557. ALMOTRIPTAN MALATE [Suspect]
     Active Substance: ALMOTRIPTAN MALATE
  558. ALMOTRIPTAN MALATE [Suspect]
     Active Substance: ALMOTRIPTAN MALATE
  559. ALMOTRIPTAN MALATE [Suspect]
     Active Substance: ALMOTRIPTAN MALATE
  560. ALMOTRIPTAN MALATE [Suspect]
     Active Substance: ALMOTRIPTAN MALATE
  561. ALMOTRIPTAN MALATE [Suspect]
     Active Substance: ALMOTRIPTAN MALATE
  562. ALMOTRIPTAN MALATE [Suspect]
     Active Substance: ALMOTRIPTAN MALATE
  563. ALMOTRIPTAN MALATE [Suspect]
     Active Substance: ALMOTRIPTAN MALATE
  564. ALMOTRIPTAN MALATE [Suspect]
     Active Substance: ALMOTRIPTAN MALATE
  565. ALMOTRIPTAN MALATE [Suspect]
     Active Substance: ALMOTRIPTAN MALATE
  566. ALMOTRIPTAN MALATE [Suspect]
     Active Substance: ALMOTRIPTAN MALATE
  567. ALMOTRIPTAN MALATE [Suspect]
     Active Substance: ALMOTRIPTAN MALATE
  568. ALMOTRIPTAN MALATE [Suspect]
     Active Substance: ALMOTRIPTAN MALATE
  569. ALMOTRIPTAN MALATE [Suspect]
     Active Substance: ALMOTRIPTAN MALATE
  570. ALMOTRIPTAN MALATE [Suspect]
     Active Substance: ALMOTRIPTAN MALATE
  571. ALMOTRIPTAN MALATE [Suspect]
     Active Substance: ALMOTRIPTAN MALATE
  572. ALMOTRIPTAN MALATE [Suspect]
     Active Substance: ALMOTRIPTAN MALATE
  573. ALMOTRIPTAN MALATE [Suspect]
     Active Substance: ALMOTRIPTAN MALATE
  574. ALMOTRIPTAN MALATE [Suspect]
     Active Substance: ALMOTRIPTAN MALATE
  575. ALMOTRIPTAN MALATE [Suspect]
     Active Substance: ALMOTRIPTAN MALATE
  576. ALMOTRIPTAN MALATE [Suspect]
     Active Substance: ALMOTRIPTAN MALATE
  577. ALMOTRIPTAN MALATE [Suspect]
     Active Substance: ALMOTRIPTAN MALATE
  578. ALMOTRIPTAN MALATE [Suspect]
     Active Substance: ALMOTRIPTAN MALATE
  579. ALMOTRIPTAN MALATE [Suspect]
     Active Substance: ALMOTRIPTAN MALATE
  580. ALMOTRIPTAN MALATE [Suspect]
     Active Substance: ALMOTRIPTAN MALATE
  581. ALMOTRIPTAN MALATE [Suspect]
     Active Substance: ALMOTRIPTAN MALATE
  582. ALMOTRIPTAN MALATE [Suspect]
     Active Substance: ALMOTRIPTAN MALATE
  583. ALMOTRIPTAN MALATE [Suspect]
     Active Substance: ALMOTRIPTAN MALATE
  584. ALMOTRIPTAN MALATE [Suspect]
     Active Substance: ALMOTRIPTAN MALATE
  585. ALMOTRIPTAN MALATE [Suspect]
     Active Substance: ALMOTRIPTAN MALATE
  586. ALMOTRIPTAN MALATE [Suspect]
     Active Substance: ALMOTRIPTAN MALATE
  587. ALMOTRIPTAN MALATE [Suspect]
     Active Substance: ALMOTRIPTAN MALATE
  588. ALMOTRIPTAN MALATE [Suspect]
     Active Substance: ALMOTRIPTAN MALATE
  589. ALMOTRIPTAN MALATE [Suspect]
     Active Substance: ALMOTRIPTAN MALATE
  590. ALMOTRIPTAN MALATE [Suspect]
     Active Substance: ALMOTRIPTAN MALATE
  591. ALMOTRIPTAN MALATE [Suspect]
     Active Substance: ALMOTRIPTAN MALATE
  592. ALMOTRIPTAN MALATE [Suspect]
     Active Substance: ALMOTRIPTAN MALATE
  593. TOPAMAX [Suspect]
     Active Substance: TOPIRAMATE
     Indication: Product used for unknown indication
     Route: 065
  594. ACETAMINOPHEN\TRAMADOL [Suspect]
     Active Substance: ACETAMINOPHEN\TRAMADOL
     Indication: Migraine
     Route: 065
  595. ACETAMINOPHEN\TRAMADOL [Suspect]
     Active Substance: ACETAMINOPHEN\TRAMADOL
     Route: 065
  596. TENORETIC [Suspect]
     Active Substance: ATENOLOL\CHLORTHALIDONE
     Indication: Product used for unknown indication
     Route: 065
  597. TENORETIC [Suspect]
     Active Substance: ATENOLOL\CHLORTHALIDONE
  598. TENORETIC [Suspect]
     Active Substance: ATENOLOL\CHLORTHALIDONE
     Route: 065
  599. TENORETIC [Suspect]
     Active Substance: ATENOLOL\CHLORTHALIDONE
     Route: 065
  600. TENORETIC [Suspect]
     Active Substance: ATENOLOL\CHLORTHALIDONE
     Route: 065
  601. TENORETIC [Suspect]
     Active Substance: ATENOLOL\CHLORTHALIDONE
     Route: 065
  602. TENORETIC [Suspect]
     Active Substance: ATENOLOL\CHLORTHALIDONE
     Route: 065
  603. TENORETIC [Suspect]
     Active Substance: ATENOLOL\CHLORTHALIDONE
     Route: 065
  604. TENORETIC [Suspect]
     Active Substance: ATENOLOL\CHLORTHALIDONE
     Route: 065
  605. TENORETIC [Suspect]
     Active Substance: ATENOLOL\CHLORTHALIDONE
     Route: 065
  606. TENORETIC [Suspect]
     Active Substance: ATENOLOL\CHLORTHALIDONE
     Route: 065
  607. TENORETIC [Suspect]
     Active Substance: ATENOLOL\CHLORTHALIDONE
     Route: 065
  608. TENORETIC [Suspect]
     Active Substance: ATENOLOL\CHLORTHALIDONE
     Route: 065
  609. TENORETIC [Suspect]
     Active Substance: ATENOLOL\CHLORTHALIDONE
     Route: 065
  610. TENORETIC [Suspect]
     Active Substance: ATENOLOL\CHLORTHALIDONE
     Route: 065
  611. TENORETIC [Suspect]
     Active Substance: ATENOLOL\CHLORTHALIDONE
     Route: 065
  612. TENORETIC [Suspect]
     Active Substance: ATENOLOL\CHLORTHALIDONE
     Route: 065
  613. TENORETIC [Suspect]
     Active Substance: ATENOLOL\CHLORTHALIDONE
     Route: 065
  614. TENORETIC [Suspect]
     Active Substance: ATENOLOL\CHLORTHALIDONE
     Route: 065
  615. TENORETIC [Suspect]
     Active Substance: ATENOLOL\CHLORTHALIDONE
  616. TENORETIC [Suspect]
     Active Substance: ATENOLOL\CHLORTHALIDONE
  617. TENORETIC [Suspect]
     Active Substance: ATENOLOL\CHLORTHALIDONE
  618. TENORETIC [Suspect]
     Active Substance: ATENOLOL\CHLORTHALIDONE
  619. TENORETIC [Suspect]
     Active Substance: ATENOLOL\CHLORTHALIDONE
  620. TENORETIC [Suspect]
     Active Substance: ATENOLOL\CHLORTHALIDONE
  621. TENORETIC [Suspect]
     Active Substance: ATENOLOL\CHLORTHALIDONE
  622. TENORETIC [Suspect]
     Active Substance: ATENOLOL\CHLORTHALIDONE
  623. TENORETIC [Suspect]
     Active Substance: ATENOLOL\CHLORTHALIDONE
  624. TENORETIC [Suspect]
     Active Substance: ATENOLOL\CHLORTHALIDONE
  625. TENORETIC [Suspect]
     Active Substance: ATENOLOL\CHLORTHALIDONE
  626. TENORETIC [Suspect]
     Active Substance: ATENOLOL\CHLORTHALIDONE
  627. TENORETIC [Suspect]
     Active Substance: ATENOLOL\CHLORTHALIDONE
     Route: 065
  628. TENORETIC [Suspect]
     Active Substance: ATENOLOL\CHLORTHALIDONE
     Route: 065
  629. TENORETIC [Suspect]
     Active Substance: ATENOLOL\CHLORTHALIDONE
     Route: 065
  630. TENORETIC [Suspect]
     Active Substance: ATENOLOL\CHLORTHALIDONE
     Route: 065
  631. TENORETIC [Suspect]
     Active Substance: ATENOLOL\CHLORTHALIDONE
     Route: 065
  632. TENORETIC [Suspect]
     Active Substance: ATENOLOL\CHLORTHALIDONE
     Route: 065
  633. TENORETIC [Suspect]
     Active Substance: ATENOLOL\CHLORTHALIDONE
     Route: 065
  634. TENORETIC [Suspect]
     Active Substance: ATENOLOL\CHLORTHALIDONE
     Route: 065
  635. TENORETIC [Suspect]
     Active Substance: ATENOLOL\CHLORTHALIDONE
     Route: 065
  636. TENORETIC [Suspect]
     Active Substance: ATENOLOL\CHLORTHALIDONE
     Route: 065
  637. TENORETIC [Suspect]
     Active Substance: ATENOLOL\CHLORTHALIDONE
     Route: 065
  638. TENORETIC [Suspect]
     Active Substance: ATENOLOL\CHLORTHALIDONE
     Route: 065
  639. TENORETIC [Suspect]
     Active Substance: ATENOLOL\CHLORTHALIDONE
     Route: 065
  640. TENORETIC [Suspect]
     Active Substance: ATENOLOL\CHLORTHALIDONE
  641. TENORETIC [Suspect]
     Active Substance: ATENOLOL\CHLORTHALIDONE
  642. TENORETIC [Suspect]
     Active Substance: ATENOLOL\CHLORTHALIDONE
  643. TENORETIC [Suspect]
     Active Substance: ATENOLOL\CHLORTHALIDONE
  644. TENORETIC [Suspect]
     Active Substance: ATENOLOL\CHLORTHALIDONE
  645. TENORETIC [Suspect]
     Active Substance: ATENOLOL\CHLORTHALIDONE
     Route: 065
  646. TENORETIC [Suspect]
     Active Substance: ATENOLOL\CHLORTHALIDONE
     Route: 065
  647. TENORETIC [Suspect]
     Active Substance: ATENOLOL\CHLORTHALIDONE
     Route: 065
  648. TENORETIC [Suspect]
     Active Substance: ATENOLOL\CHLORTHALIDONE
     Route: 065
  649. TENORETIC [Suspect]
     Active Substance: ATENOLOL\CHLORTHALIDONE
     Route: 065
  650. TENORETIC [Suspect]
     Active Substance: ATENOLOL\CHLORTHALIDONE
     Route: 065
  651. TENORETIC [Suspect]
     Active Substance: ATENOLOL\CHLORTHALIDONE
     Route: 065
  652. TENORETIC [Suspect]
     Active Substance: ATENOLOL\CHLORTHALIDONE
     Route: 065
  653. TENORETIC [Suspect]
     Active Substance: ATENOLOL\CHLORTHALIDONE
     Route: 065
  654. TENORETIC [Suspect]
     Active Substance: ATENOLOL\CHLORTHALIDONE
     Route: 065
  655. TENORETIC [Suspect]
     Active Substance: ATENOLOL\CHLORTHALIDONE
     Route: 065
  656. TENORETIC [Suspect]
     Active Substance: ATENOLOL\CHLORTHALIDONE
     Route: 065
  657. TENORETIC [Suspect]
     Active Substance: ATENOLOL\CHLORTHALIDONE
     Route: 065
  658. TENORETIC [Suspect]
     Active Substance: ATENOLOL\CHLORTHALIDONE
     Route: 065
  659. TENORETIC [Suspect]
     Active Substance: ATENOLOL\CHLORTHALIDONE
     Route: 065
  660. TENORETIC [Suspect]
     Active Substance: ATENOLOL\CHLORTHALIDONE
     Route: 065
  661. TENORETIC [Suspect]
     Active Substance: ATENOLOL\CHLORTHALIDONE
     Route: 065
  662. TENORETIC [Suspect]
     Active Substance: ATENOLOL\CHLORTHALIDONE
     Route: 065
  663. TENORETIC [Suspect]
     Active Substance: ATENOLOL\CHLORTHALIDONE
     Route: 065
  664. TENORETIC [Suspect]
     Active Substance: ATENOLOL\CHLORTHALIDONE
     Route: 065
  665. TENORETIC [Suspect]
     Active Substance: ATENOLOL\CHLORTHALIDONE
     Route: 065
  666. TENORETIC [Suspect]
     Active Substance: ATENOLOL\CHLORTHALIDONE
     Route: 065
  667. TENORETIC [Suspect]
     Active Substance: ATENOLOL\CHLORTHALIDONE
     Route: 065
  668. TENORETIC [Suspect]
     Active Substance: ATENOLOL\CHLORTHALIDONE
     Route: 065
  669. TENORETIC [Suspect]
     Active Substance: ATENOLOL\CHLORTHALIDONE
     Route: 065
  670. TENORETIC [Suspect]
     Active Substance: ATENOLOL\CHLORTHALIDONE
     Route: 065
  671. TENORETIC [Suspect]
     Active Substance: ATENOLOL\CHLORTHALIDONE
     Route: 065
  672. TENORETIC [Suspect]
     Active Substance: ATENOLOL\CHLORTHALIDONE
     Route: 065
  673. TENORETIC [Suspect]
     Active Substance: ATENOLOL\CHLORTHALIDONE
     Route: 065
  674. TENORETIC [Suspect]
     Active Substance: ATENOLOL\CHLORTHALIDONE
     Route: 065
  675. TENORETIC [Suspect]
     Active Substance: ATENOLOL\CHLORTHALIDONE
     Route: 065
  676. TENORETIC [Suspect]
     Active Substance: ATENOLOL\CHLORTHALIDONE
     Route: 065
  677. TENORETIC [Suspect]
     Active Substance: ATENOLOL\CHLORTHALIDONE
     Route: 065
  678. TENORETIC [Suspect]
     Active Substance: ATENOLOL\CHLORTHALIDONE
     Route: 065
  679. TENORETIC [Suspect]
     Active Substance: ATENOLOL\CHLORTHALIDONE
     Route: 065
  680. TENORETIC [Suspect]
     Active Substance: ATENOLOL\CHLORTHALIDONE
     Route: 065
  681. TENORETIC [Suspect]
     Active Substance: ATENOLOL\CHLORTHALIDONE
     Route: 065
  682. TENORETIC [Suspect]
     Active Substance: ATENOLOL\CHLORTHALIDONE
     Route: 065
  683. TENORETIC [Suspect]
     Active Substance: ATENOLOL\CHLORTHALIDONE
     Route: 065
  684. TENORETIC [Suspect]
     Active Substance: ATENOLOL\CHLORTHALIDONE
     Route: 065
  685. TENORETIC [Suspect]
     Active Substance: ATENOLOL\CHLORTHALIDONE
     Route: 065
  686. TENORETIC [Suspect]
     Active Substance: ATENOLOL\CHLORTHALIDONE
     Route: 065
  687. TENORETIC [Suspect]
     Active Substance: ATENOLOL\CHLORTHALIDONE
     Route: 065
  688. TENORETIC [Suspect]
     Active Substance: ATENOLOL\CHLORTHALIDONE
     Route: 065
  689. TENORETIC [Suspect]
     Active Substance: ATENOLOL\CHLORTHALIDONE
     Route: 065
  690. TENORETIC [Suspect]
     Active Substance: ATENOLOL\CHLORTHALIDONE
     Route: 065
  691. TENORETIC [Suspect]
     Active Substance: ATENOLOL\CHLORTHALIDONE
     Route: 065
  692. TENORETIC [Suspect]
     Active Substance: ATENOLOL\CHLORTHALIDONE
     Route: 065
  693. TENORETIC [Suspect]
     Active Substance: ATENOLOL\CHLORTHALIDONE
     Route: 065
  694. TENORETIC [Suspect]
     Active Substance: ATENOLOL\CHLORTHALIDONE
     Route: 065
  695. TENORETIC [Suspect]
     Active Substance: ATENOLOL\CHLORTHALIDONE
     Route: 065
  696. TENORETIC [Suspect]
     Active Substance: ATENOLOL\CHLORTHALIDONE
     Route: 065
  697. TENORETIC [Suspect]
     Active Substance: ATENOLOL\CHLORTHALIDONE
     Route: 065
  698. TENORETIC [Suspect]
     Active Substance: ATENOLOL\CHLORTHALIDONE
     Route: 065
  699. TENORETIC [Suspect]
     Active Substance: ATENOLOL\CHLORTHALIDONE
     Route: 065
  700. TENORETIC [Suspect]
     Active Substance: ATENOLOL\CHLORTHALIDONE
     Route: 065
  701. TENORETIC [Suspect]
     Active Substance: ATENOLOL\CHLORTHALIDONE
     Route: 065
  702. TENORETIC [Suspect]
     Active Substance: ATENOLOL\CHLORTHALIDONE
     Route: 065
  703. TENORETIC [Suspect]
     Active Substance: ATENOLOL\CHLORTHALIDONE
     Route: 065
  704. TENORETIC [Suspect]
     Active Substance: ATENOLOL\CHLORTHALIDONE
     Route: 065
  705. TENORETIC [Suspect]
     Active Substance: ATENOLOL\CHLORTHALIDONE
     Route: 065
  706. TENORETIC [Suspect]
     Active Substance: ATENOLOL\CHLORTHALIDONE
     Route: 065
  707. TENORETIC [Suspect]
     Active Substance: ATENOLOL\CHLORTHALIDONE
     Route: 065
  708. TENORETIC [Suspect]
     Active Substance: ATENOLOL\CHLORTHALIDONE
     Route: 065
  709. TENORETIC [Suspect]
     Active Substance: ATENOLOL\CHLORTHALIDONE
     Route: 065
  710. TENORETIC [Suspect]
     Active Substance: ATENOLOL\CHLORTHALIDONE
     Route: 065
  711. TENORETIC [Suspect]
     Active Substance: ATENOLOL\CHLORTHALIDONE
     Route: 065
  712. TENORETIC [Suspect]
     Active Substance: ATENOLOL\CHLORTHALIDONE
     Route: 065
  713. TENORETIC [Suspect]
     Active Substance: ATENOLOL\CHLORTHALIDONE
     Route: 065
  714. TENORETIC [Suspect]
     Active Substance: ATENOLOL\CHLORTHALIDONE
     Route: 065
  715. TENORETIC [Suspect]
     Active Substance: ATENOLOL\CHLORTHALIDONE
     Route: 065
  716. TENORETIC [Suspect]
     Active Substance: ATENOLOL\CHLORTHALIDONE
     Route: 065
  717. TENORETIC [Suspect]
     Active Substance: ATENOLOL\CHLORTHALIDONE
     Route: 065
  718. TENORETIC [Suspect]
     Active Substance: ATENOLOL\CHLORTHALIDONE
     Route: 065
  719. TENORETIC [Suspect]
     Active Substance: ATENOLOL\CHLORTHALIDONE
     Route: 065
  720. TENORETIC [Suspect]
     Active Substance: ATENOLOL\CHLORTHALIDONE
     Route: 065
  721. TENORETIC [Suspect]
     Active Substance: ATENOLOL\CHLORTHALIDONE
     Route: 065
  722. TENORETIC [Suspect]
     Active Substance: ATENOLOL\CHLORTHALIDONE
     Route: 065
  723. TENORETIC [Suspect]
     Active Substance: ATENOLOL\CHLORTHALIDONE
     Route: 065
  724. TENORETIC [Suspect]
     Active Substance: ATENOLOL\CHLORTHALIDONE
     Route: 065
  725. TENORETIC [Suspect]
     Active Substance: ATENOLOL\CHLORTHALIDONE
     Route: 065
  726. TENORETIC [Suspect]
     Active Substance: ATENOLOL\CHLORTHALIDONE
     Route: 065
  727. TENORETIC [Suspect]
     Active Substance: ATENOLOL\CHLORTHALIDONE
     Route: 065
  728. TENORETIC [Suspect]
     Active Substance: ATENOLOL\CHLORTHALIDONE
     Route: 065
  729. TENORETIC [Suspect]
     Active Substance: ATENOLOL\CHLORTHALIDONE
     Route: 065
  730. TENORETIC [Suspect]
     Active Substance: ATENOLOL\CHLORTHALIDONE
     Route: 065
  731. TENORETIC [Suspect]
     Active Substance: ATENOLOL\CHLORTHALIDONE
     Route: 065
  732. TENORETIC [Suspect]
     Active Substance: ATENOLOL\CHLORTHALIDONE
     Route: 065
  733. TENORETIC [Suspect]
     Active Substance: ATENOLOL\CHLORTHALIDONE
     Route: 065
  734. TENORETIC [Suspect]
     Active Substance: ATENOLOL\CHLORTHALIDONE
     Route: 065
  735. TENORETIC [Suspect]
     Active Substance: ATENOLOL\CHLORTHALIDONE
  736. TENORETIC [Suspect]
     Active Substance: ATENOLOL\CHLORTHALIDONE
  737. TENORETIC [Suspect]
     Active Substance: ATENOLOL\CHLORTHALIDONE
  738. TENORETIC [Suspect]
     Active Substance: ATENOLOL\CHLORTHALIDONE
  739. TENORETIC [Suspect]
     Active Substance: ATENOLOL\CHLORTHALIDONE
  740. TENORETIC [Suspect]
     Active Substance: ATENOLOL\CHLORTHALIDONE
  741. TENORETIC [Suspect]
     Active Substance: ATENOLOL\CHLORTHALIDONE
  742. TENORETIC [Suspect]
     Active Substance: ATENOLOL\CHLORTHALIDONE
  743. TENORETIC [Suspect]
     Active Substance: ATENOLOL\CHLORTHALIDONE
  744. TENORETIC [Suspect]
     Active Substance: ATENOLOL\CHLORTHALIDONE
  745. TENORETIC [Suspect]
     Active Substance: ATENOLOL\CHLORTHALIDONE
  746. TENORETIC [Suspect]
     Active Substance: ATENOLOL\CHLORTHALIDONE
  747. TENORETIC [Suspect]
     Active Substance: ATENOLOL\CHLORTHALIDONE
  748. TENORETIC [Suspect]
     Active Substance: ATENOLOL\CHLORTHALIDONE
  749. TENORETIC [Suspect]
     Active Substance: ATENOLOL\CHLORTHALIDONE
  750. TENORETIC [Suspect]
     Active Substance: ATENOLOL\CHLORTHALIDONE
  751. TENORETIC [Suspect]
     Active Substance: ATENOLOL\CHLORTHALIDONE
  752. TENORETIC [Suspect]
     Active Substance: ATENOLOL\CHLORTHALIDONE
  753. TENORETIC [Suspect]
     Active Substance: ATENOLOL\CHLORTHALIDONE
  754. TENORETIC [Suspect]
     Active Substance: ATENOLOL\CHLORTHALIDONE
  755. TENORETIC [Suspect]
     Active Substance: ATENOLOL\CHLORTHALIDONE
  756. TENORETIC [Suspect]
     Active Substance: ATENOLOL\CHLORTHALIDONE
  757. TENORETIC [Suspect]
     Active Substance: ATENOLOL\CHLORTHALIDONE
  758. TENORETIC [Suspect]
     Active Substance: ATENOLOL\CHLORTHALIDONE
  759. TENORETIC [Suspect]
     Active Substance: ATENOLOL\CHLORTHALIDONE
  760. TENORETIC [Suspect]
     Active Substance: ATENOLOL\CHLORTHALIDONE
  761. TENORETIC [Suspect]
     Active Substance: ATENOLOL\CHLORTHALIDONE
  762. TENORETIC [Suspect]
     Active Substance: ATENOLOL\CHLORTHALIDONE
  763. TENORETIC [Suspect]
     Active Substance: ATENOLOL\CHLORTHALIDONE
  764. TENORETIC [Suspect]
     Active Substance: ATENOLOL\CHLORTHALIDONE
  765. TENORETIC [Suspect]
     Active Substance: ATENOLOL\CHLORTHALIDONE
  766. TENORETIC [Suspect]
     Active Substance: ATENOLOL\CHLORTHALIDONE
  767. TENORETIC [Suspect]
     Active Substance: ATENOLOL\CHLORTHALIDONE
  768. TENORETIC [Suspect]
     Active Substance: ATENOLOL\CHLORTHALIDONE
  769. TENORETIC [Suspect]
     Active Substance: ATENOLOL\CHLORTHALIDONE
  770. TENORETIC [Suspect]
     Active Substance: ATENOLOL\CHLORTHALIDONE
  771. TENORETIC [Suspect]
     Active Substance: ATENOLOL\CHLORTHALIDONE
  772. TENORETIC [Suspect]
     Active Substance: ATENOLOL\CHLORTHALIDONE
  773. TENORETIC [Suspect]
     Active Substance: ATENOLOL\CHLORTHALIDONE
  774. TENORETIC [Suspect]
     Active Substance: ATENOLOL\CHLORTHALIDONE
  775. TENORETIC [Suspect]
     Active Substance: ATENOLOL\CHLORTHALIDONE
  776. TENORETIC [Suspect]
     Active Substance: ATENOLOL\CHLORTHALIDONE
  777. TENORETIC [Suspect]
     Active Substance: ATENOLOL\CHLORTHALIDONE
  778. TENORETIC [Suspect]
     Active Substance: ATENOLOL\CHLORTHALIDONE
  779. TENORETIC [Suspect]
     Active Substance: ATENOLOL\CHLORTHALIDONE
  780. TENORETIC [Suspect]
     Active Substance: ATENOLOL\CHLORTHALIDONE
  781. TENORETIC [Suspect]
     Active Substance: ATENOLOL\CHLORTHALIDONE
  782. TENORETIC [Suspect]
     Active Substance: ATENOLOL\CHLORTHALIDONE
  783. TENORETIC [Suspect]
     Active Substance: ATENOLOL\CHLORTHALIDONE
  784. TENORETIC [Suspect]
     Active Substance: ATENOLOL\CHLORTHALIDONE
  785. TENORETIC [Suspect]
     Active Substance: ATENOLOL\CHLORTHALIDONE
  786. TENORETIC [Suspect]
     Active Substance: ATENOLOL\CHLORTHALIDONE
  787. TENORETIC [Suspect]
     Active Substance: ATENOLOL\CHLORTHALIDONE
  788. TENORETIC [Suspect]
     Active Substance: ATENOLOL\CHLORTHALIDONE
  789. TENORETIC [Suspect]
     Active Substance: ATENOLOL\CHLORTHALIDONE
  790. TENORETIC [Suspect]
     Active Substance: ATENOLOL\CHLORTHALIDONE
  791. TENORETIC [Suspect]
     Active Substance: ATENOLOL\CHLORTHALIDONE
  792. TENORETIC [Suspect]
     Active Substance: ATENOLOL\CHLORTHALIDONE
  793. TENORETIC [Suspect]
     Active Substance: ATENOLOL\CHLORTHALIDONE
  794. TENORETIC [Suspect]
     Active Substance: ATENOLOL\CHLORTHALIDONE
  795. TENORETIC [Suspect]
     Active Substance: ATENOLOL\CHLORTHALIDONE
  796. TENORETIC [Suspect]
     Active Substance: ATENOLOL\CHLORTHALIDONE
  797. TENORETIC [Suspect]
     Active Substance: ATENOLOL\CHLORTHALIDONE
  798. TENORETIC [Suspect]
     Active Substance: ATENOLOL\CHLORTHALIDONE
  799. TENORETIC [Suspect]
     Active Substance: ATENOLOL\CHLORTHALIDONE
  800. TENORETIC [Suspect]
     Active Substance: ATENOLOL\CHLORTHALIDONE
  801. TENORETIC [Suspect]
     Active Substance: ATENOLOL\CHLORTHALIDONE
  802. TENORETIC [Suspect]
     Active Substance: ATENOLOL\CHLORTHALIDONE
  803. TENORETIC [Suspect]
     Active Substance: ATENOLOL\CHLORTHALIDONE
  804. TENORETIC [Suspect]
     Active Substance: ATENOLOL\CHLORTHALIDONE
  805. TENORETIC [Suspect]
     Active Substance: ATENOLOL\CHLORTHALIDONE
  806. TENORETIC [Suspect]
     Active Substance: ATENOLOL\CHLORTHALIDONE
  807. TENORETIC [Suspect]
     Active Substance: ATENOLOL\CHLORTHALIDONE
  808. TENORETIC [Suspect]
     Active Substance: ATENOLOL\CHLORTHALIDONE
  809. TENORETIC [Suspect]
     Active Substance: ATENOLOL\CHLORTHALIDONE
  810. TENORETIC [Suspect]
     Active Substance: ATENOLOL\CHLORTHALIDONE
  811. TENORETIC [Suspect]
     Active Substance: ATENOLOL\CHLORTHALIDONE
  812. TENORETIC [Suspect]
     Active Substance: ATENOLOL\CHLORTHALIDONE
  813. TENORETIC [Suspect]
     Active Substance: ATENOLOL\CHLORTHALIDONE
  814. TENORETIC [Suspect]
     Active Substance: ATENOLOL\CHLORTHALIDONE
  815. TENORETIC [Suspect]
     Active Substance: ATENOLOL\CHLORTHALIDONE
  816. TENORETIC [Suspect]
     Active Substance: ATENOLOL\CHLORTHALIDONE
  817. TENORETIC [Suspect]
     Active Substance: ATENOLOL\CHLORTHALIDONE
  818. TENORETIC [Suspect]
     Active Substance: ATENOLOL\CHLORTHALIDONE
  819. TENORETIC [Suspect]
     Active Substance: ATENOLOL\CHLORTHALIDONE
  820. TENORETIC [Suspect]
     Active Substance: ATENOLOL\CHLORTHALIDONE
  821. TENORETIC [Suspect]
     Active Substance: ATENOLOL\CHLORTHALIDONE
  822. TENORETIC [Suspect]
     Active Substance: ATENOLOL\CHLORTHALIDONE
  823. TENORETIC [Suspect]
     Active Substance: ATENOLOL\CHLORTHALIDONE
  824. TENORETIC [Suspect]
     Active Substance: ATENOLOL\CHLORTHALIDONE
  825. TENORETIC [Suspect]
     Active Substance: ATENOLOL\CHLORTHALIDONE
  826. TENORETIC [Suspect]
     Active Substance: ATENOLOL\CHLORTHALIDONE
  827. TENORETIC [Suspect]
     Active Substance: ATENOLOL\CHLORTHALIDONE
  828. TENORETIC [Suspect]
     Active Substance: ATENOLOL\CHLORTHALIDONE
  829. TENORETIC [Suspect]
     Active Substance: ATENOLOL\CHLORTHALIDONE
  830. TENORETIC [Suspect]
     Active Substance: ATENOLOL\CHLORTHALIDONE
  831. TENORETIC [Suspect]
     Active Substance: ATENOLOL\CHLORTHALIDONE
  832. TENORETIC [Suspect]
     Active Substance: ATENOLOL\CHLORTHALIDONE
  833. TENORETIC [Suspect]
     Active Substance: ATENOLOL\CHLORTHALIDONE
  834. TENORETIC [Suspect]
     Active Substance: ATENOLOL\CHLORTHALIDONE
  835. TENORETIC [Suspect]
     Active Substance: ATENOLOL\CHLORTHALIDONE
  836. TENORETIC [Suspect]
     Active Substance: ATENOLOL\CHLORTHALIDONE
  837. TENORETIC [Suspect]
     Active Substance: ATENOLOL\CHLORTHALIDONE
  838. TENORETIC [Suspect]
     Active Substance: ATENOLOL\CHLORTHALIDONE
  839. TENORETIC [Suspect]
     Active Substance: ATENOLOL\CHLORTHALIDONE
  840. TENORETIC [Suspect]
     Active Substance: ATENOLOL\CHLORTHALIDONE
  841. TENORETIC [Suspect]
     Active Substance: ATENOLOL\CHLORTHALIDONE
  842. TENORETIC [Suspect]
     Active Substance: ATENOLOL\CHLORTHALIDONE
  843. TENORETIC [Suspect]
     Active Substance: ATENOLOL\CHLORTHALIDONE
  844. TENORETIC [Suspect]
     Active Substance: ATENOLOL\CHLORTHALIDONE
  845. TENORETIC [Suspect]
     Active Substance: ATENOLOL\CHLORTHALIDONE
  846. TENORETIC [Suspect]
     Active Substance: ATENOLOL\CHLORTHALIDONE
  847. TENORETIC [Suspect]
     Active Substance: ATENOLOL\CHLORTHALIDONE
  848. TENORETIC [Suspect]
     Active Substance: ATENOLOL\CHLORTHALIDONE
  849. TENORETIC [Suspect]
     Active Substance: ATENOLOL\CHLORTHALIDONE
  850. TENORETIC [Suspect]
     Active Substance: ATENOLOL\CHLORTHALIDONE
  851. TENORETIC [Suspect]
     Active Substance: ATENOLOL\CHLORTHALIDONE
  852. TENORETIC [Suspect]
     Active Substance: ATENOLOL\CHLORTHALIDONE
  853. TENORETIC [Suspect]
     Active Substance: ATENOLOL\CHLORTHALIDONE
  854. TENORETIC [Suspect]
     Active Substance: ATENOLOL\CHLORTHALIDONE
  855. TENORETIC [Suspect]
     Active Substance: ATENOLOL\CHLORTHALIDONE
  856. TENORETIC [Suspect]
     Active Substance: ATENOLOL\CHLORTHALIDONE
  857. TENORETIC [Suspect]
     Active Substance: ATENOLOL\CHLORTHALIDONE
  858. TENORETIC [Suspect]
     Active Substance: ATENOLOL\CHLORTHALIDONE
  859. TENORETIC [Suspect]
     Active Substance: ATENOLOL\CHLORTHALIDONE
  860. TENORETIC [Suspect]
     Active Substance: ATENOLOL\CHLORTHALIDONE
  861. TENORETIC [Suspect]
     Active Substance: ATENOLOL\CHLORTHALIDONE
  862. TENORETIC [Suspect]
     Active Substance: ATENOLOL\CHLORTHALIDONE
  863. TENORETIC [Suspect]
     Active Substance: ATENOLOL\CHLORTHALIDONE
  864. TENORETIC [Suspect]
     Active Substance: ATENOLOL\CHLORTHALIDONE
  865. TENORETIC [Suspect]
     Active Substance: ATENOLOL\CHLORTHALIDONE
  866. TENORETIC [Suspect]
     Active Substance: ATENOLOL\CHLORTHALIDONE
  867. TENORETIC [Suspect]
     Active Substance: ATENOLOL\CHLORTHALIDONE
  868. TENORETIC [Suspect]
     Active Substance: ATENOLOL\CHLORTHALIDONE
  869. TENORETIC [Suspect]
     Active Substance: ATENOLOL\CHLORTHALIDONE
  870. TENORETIC [Suspect]
     Active Substance: ATENOLOL\CHLORTHALIDONE
  871. TENORETIC [Suspect]
     Active Substance: ATENOLOL\CHLORTHALIDONE
  872. TENORETIC [Suspect]
     Active Substance: ATENOLOL\CHLORTHALIDONE
  873. TENORETIC [Suspect]
     Active Substance: ATENOLOL\CHLORTHALIDONE
  874. TENORETIC [Suspect]
     Active Substance: ATENOLOL\CHLORTHALIDONE
  875. TENORETIC [Suspect]
     Active Substance: ATENOLOL\CHLORTHALIDONE
  876. TENORETIC [Suspect]
     Active Substance: ATENOLOL\CHLORTHALIDONE
  877. TENORETIC [Suspect]
     Active Substance: ATENOLOL\CHLORTHALIDONE
  878. TYLENOL [Suspect]
     Active Substance: ACETAMINOPHEN
     Indication: Product used for unknown indication
     Route: 065
  879. TYLENOL [Suspect]
     Active Substance: ACETAMINOPHEN
     Route: 065
  880. TYLENOL [Suspect]
     Active Substance: ACETAMINOPHEN
  881. GABAPENTIN [Suspect]
     Active Substance: GABAPENTIN
     Indication: Product used for unknown indication
     Route: 065
  882. GABAPENTIN [Suspect]
     Active Substance: GABAPENTIN
     Route: 065
  883. GABAPENTIN [Suspect]
     Active Substance: GABAPENTIN
     Route: 065
  884. ENDOCET [Suspect]
     Active Substance: ACETAMINOPHEN\OXYCODONE HYDROCHLORIDE
     Indication: Migraine
     Route: 065
  885. ENDOCET [Suspect]
     Active Substance: ACETAMINOPHEN\OXYCODONE HYDROCHLORIDE
     Route: 065
  886. ENDOCET [Suspect]
     Active Substance: ACETAMINOPHEN\OXYCODONE HYDROCHLORIDE
  887. ENDOCET [Suspect]
     Active Substance: ACETAMINOPHEN\OXYCODONE HYDROCHLORIDE
  888. DULOXETINE [Suspect]
     Active Substance: DULOXETINE
     Indication: Migraine
     Route: 065
  889. DULOXETINE [Suspect]
     Active Substance: DULOXETINE
     Route: 065
  890. DULOXETINE [Suspect]
     Active Substance: DULOXETINE
     Route: 065
  891. DULOXETINE [Suspect]
     Active Substance: DULOXETINE
     Route: 065
  892. DULOXETINE [Suspect]
     Active Substance: DULOXETINE
     Route: 065
  893. DULOXETINE [Suspect]
     Active Substance: DULOXETINE
     Route: 065
  894. DULOXETINE [Suspect]
     Active Substance: DULOXETINE
     Route: 065
  895. DULOXETINE [Suspect]
     Active Substance: DULOXETINE
     Route: 065
  896. DULOXETINE [Suspect]
     Active Substance: DULOXETINE
     Route: 065
  897. DULOXETINE [Suspect]
     Active Substance: DULOXETINE
     Route: 065
  898. DULOXETINE [Suspect]
     Active Substance: DULOXETINE
     Route: 065
  899. DULOXETINE [Suspect]
     Active Substance: DULOXETINE
     Route: 065
  900. DULOXETINE [Suspect]
     Active Substance: DULOXETINE
     Route: 065
  901. DULOXETINE [Suspect]
     Active Substance: DULOXETINE
     Route: 065
  902. DULOXETINE [Suspect]
     Active Substance: DULOXETINE
     Route: 065
  903. DULOXETINE [Suspect]
     Active Substance: DULOXETINE
     Route: 065
  904. DULOXETINE [Suspect]
     Active Substance: DULOXETINE
     Route: 065
  905. DULOXETINE [Suspect]
     Active Substance: DULOXETINE
     Route: 065
  906. DULOXETINE [Suspect]
     Active Substance: DULOXETINE
     Route: 065
  907. DULOXETINE [Suspect]
     Active Substance: DULOXETINE
     Route: 065
  908. DULOXETINE [Suspect]
     Active Substance: DULOXETINE
     Route: 065
  909. DULOXETINE [Suspect]
     Active Substance: DULOXETINE
     Route: 065
  910. DULOXETINE [Suspect]
     Active Substance: DULOXETINE
     Route: 065
  911. DULOXETINE [Suspect]
     Active Substance: DULOXETINE
     Route: 065
  912. DULOXETINE [Suspect]
     Active Substance: DULOXETINE
     Route: 065
  913. DULOXETINE [Suspect]
     Active Substance: DULOXETINE
     Route: 065
  914. DULOXETINE [Suspect]
     Active Substance: DULOXETINE
     Route: 065
  915. DULOXETINE [Suspect]
     Active Substance: DULOXETINE
     Route: 065
  916. DULOXETINE [Suspect]
     Active Substance: DULOXETINE
     Route: 065
  917. DULOXETINE [Suspect]
     Active Substance: DULOXETINE
     Route: 065
  918. DULOXETINE [Suspect]
     Active Substance: DULOXETINE
     Route: 065
  919. DULOXETINE [Suspect]
     Active Substance: DULOXETINE
     Route: 065
  920. DULOXETINE [Suspect]
     Active Substance: DULOXETINE
     Route: 065
  921. DULOXETINE [Suspect]
     Active Substance: DULOXETINE
     Route: 065
  922. DULOXETINE [Suspect]
     Active Substance: DULOXETINE
     Route: 065
  923. DULOXETINE [Suspect]
     Active Substance: DULOXETINE
     Route: 065
  924. DULOXETINE [Suspect]
     Active Substance: DULOXETINE
     Route: 065
  925. DULOXETINE [Suspect]
     Active Substance: DULOXETINE
     Route: 065
  926. DULOXETINE [Suspect]
     Active Substance: DULOXETINE
     Route: 065
  927. DULOXETINE [Suspect]
     Active Substance: DULOXETINE
     Route: 065
  928. DULOXETINE [Suspect]
     Active Substance: DULOXETINE
     Route: 065
  929. DULOXETINE [Suspect]
     Active Substance: DULOXETINE
     Route: 065
  930. DULOXETINE [Suspect]
     Active Substance: DULOXETINE
     Route: 065
  931. DULOXETINE [Suspect]
     Active Substance: DULOXETINE
     Route: 065
  932. DULOXETINE [Suspect]
     Active Substance: DULOXETINE
     Route: 065
  933. DULOXETINE [Suspect]
     Active Substance: DULOXETINE
     Route: 065
  934. DULOXETINE [Suspect]
     Active Substance: DULOXETINE
     Route: 065
  935. DULOXETINE [Suspect]
     Active Substance: DULOXETINE
     Route: 065
  936. DULOXETINE [Suspect]
     Active Substance: DULOXETINE
     Route: 065
  937. DULOXETINE [Suspect]
     Active Substance: DULOXETINE
     Route: 065
  938. DULOXETINE [Suspect]
     Active Substance: DULOXETINE
  939. DULOXETINE [Suspect]
     Active Substance: DULOXETINE
  940. DULOXETINE [Suspect]
     Active Substance: DULOXETINE
  941. DULOXETINE [Suspect]
     Active Substance: DULOXETINE
  942. DULOXETINE [Suspect]
     Active Substance: DULOXETINE
  943. DULOXETINE [Suspect]
     Active Substance: DULOXETINE
  944. DULOXETINE [Suspect]
     Active Substance: DULOXETINE
  945. DULOXETINE [Suspect]
     Active Substance: DULOXETINE
  946. DULOXETINE [Suspect]
     Active Substance: DULOXETINE
  947. DULOXETINE [Suspect]
     Active Substance: DULOXETINE
  948. DULOXETINE [Suspect]
     Active Substance: DULOXETINE
  949. DULOXETINE [Suspect]
     Active Substance: DULOXETINE
  950. DULOXETINE [Suspect]
     Active Substance: DULOXETINE
  951. DULOXETINE [Suspect]
     Active Substance: DULOXETINE
  952. DULOXETINE [Suspect]
     Active Substance: DULOXETINE
  953. DULOXETINE [Suspect]
     Active Substance: DULOXETINE
  954. DULOXETINE [Suspect]
     Active Substance: DULOXETINE
  955. DULOXETINE [Suspect]
     Active Substance: DULOXETINE
  956. DULOXETINE [Suspect]
     Active Substance: DULOXETINE
  957. DULOXETINE [Suspect]
     Active Substance: DULOXETINE
  958. DULOXETINE [Suspect]
     Active Substance: DULOXETINE
  959. DULOXETINE [Suspect]
     Active Substance: DULOXETINE
  960. DULOXETINE [Suspect]
     Active Substance: DULOXETINE
  961. DULOXETINE [Suspect]
     Active Substance: DULOXETINE
  962. DULOXETINE [Suspect]
     Active Substance: DULOXETINE
  963. DULOXETINE [Suspect]
     Active Substance: DULOXETINE
  964. DULOXETINE [Suspect]
     Active Substance: DULOXETINE
  965. DULOXETINE [Suspect]
     Active Substance: DULOXETINE
  966. DULOXETINE [Suspect]
     Active Substance: DULOXETINE
  967. DULOXETINE [Suspect]
     Active Substance: DULOXETINE
  968. DULOXETINE [Suspect]
     Active Substance: DULOXETINE
  969. DULOXETINE [Suspect]
     Active Substance: DULOXETINE
  970. DULOXETINE [Suspect]
     Active Substance: DULOXETINE
  971. DULOXETINE [Suspect]
     Active Substance: DULOXETINE
  972. DULOXETINE [Suspect]
     Active Substance: DULOXETINE
  973. DULOXETINE [Suspect]
     Active Substance: DULOXETINE
  974. DULOXETINE [Suspect]
     Active Substance: DULOXETINE
  975. DULOXETINE [Suspect]
     Active Substance: DULOXETINE
  976. DULOXETINE [Suspect]
     Active Substance: DULOXETINE
  977. DULOXETINE [Suspect]
     Active Substance: DULOXETINE
  978. DULOXETINE [Suspect]
     Active Substance: DULOXETINE
  979. DULOXETINE [Suspect]
     Active Substance: DULOXETINE
  980. DULOXETINE [Suspect]
     Active Substance: DULOXETINE
  981. DULOXETINE [Suspect]
     Active Substance: DULOXETINE
  982. DULOXETINE [Suspect]
     Active Substance: DULOXETINE
  983. CODEINE PHOSPHATE [Suspect]
     Active Substance: CODEINE PHOSPHATE
     Indication: Migraine
     Route: 065
  984. CODEINE PHOSPHATE [Suspect]
     Active Substance: CODEINE PHOSPHATE
  985. CODEINE PHOSPHATE [Suspect]
     Active Substance: CODEINE PHOSPHATE
     Route: 065
  986. CODEINE PHOSPHATE [Suspect]
     Active Substance: CODEINE PHOSPHATE
     Route: 065
  987. CODEINE PHOSPHATE [Suspect]
     Active Substance: CODEINE PHOSPHATE
     Route: 065
  988. CODEINE PHOSPHATE [Suspect]
     Active Substance: CODEINE PHOSPHATE
     Route: 065
  989. CODEINE PHOSPHATE [Suspect]
     Active Substance: CODEINE PHOSPHATE
     Route: 065
  990. CODEINE PHOSPHATE [Suspect]
     Active Substance: CODEINE PHOSPHATE
     Route: 065
  991. CODEINE PHOSPHATE [Suspect]
     Active Substance: CODEINE PHOSPHATE
     Route: 065
  992. CODEINE PHOSPHATE [Suspect]
     Active Substance: CODEINE PHOSPHATE
     Route: 065
  993. CODEINE PHOSPHATE [Suspect]
     Active Substance: CODEINE PHOSPHATE
     Route: 065
  994. CODEINE PHOSPHATE [Suspect]
     Active Substance: CODEINE PHOSPHATE
     Route: 065
  995. CODEINE PHOSPHATE [Suspect]
     Active Substance: CODEINE PHOSPHATE
     Route: 065
  996. CODEINE PHOSPHATE [Suspect]
     Active Substance: CODEINE PHOSPHATE
     Route: 065
  997. CODEINE PHOSPHATE [Suspect]
     Active Substance: CODEINE PHOSPHATE
     Route: 065
  998. CODEINE PHOSPHATE [Suspect]
     Active Substance: CODEINE PHOSPHATE
     Route: 065
  999. CODEINE PHOSPHATE [Suspect]
     Active Substance: CODEINE PHOSPHATE
     Route: 065
  1000. CODEINE PHOSPHATE [Suspect]
     Active Substance: CODEINE PHOSPHATE
     Route: 065
  1001. CODEINE PHOSPHATE [Suspect]
     Active Substance: CODEINE PHOSPHATE
     Route: 065
  1002. CODEINE PHOSPHATE [Suspect]
     Active Substance: CODEINE PHOSPHATE
     Route: 065
  1003. CODEINE PHOSPHATE [Suspect]
     Active Substance: CODEINE PHOSPHATE
     Route: 065
  1004. CODEINE PHOSPHATE [Suspect]
     Active Substance: CODEINE PHOSPHATE
     Route: 065
  1005. CODEINE PHOSPHATE [Suspect]
     Active Substance: CODEINE PHOSPHATE
     Route: 065
  1006. CODEINE PHOSPHATE [Suspect]
     Active Substance: CODEINE PHOSPHATE
     Route: 065
  1007. CODEINE PHOSPHATE [Suspect]
     Active Substance: CODEINE PHOSPHATE
     Route: 065
  1008. CODEINE PHOSPHATE [Suspect]
     Active Substance: CODEINE PHOSPHATE
     Route: 065
  1009. CODEINE PHOSPHATE [Suspect]
     Active Substance: CODEINE PHOSPHATE
     Route: 065
  1010. CODEINE PHOSPHATE [Suspect]
     Active Substance: CODEINE PHOSPHATE
     Route: 065
  1011. CODEINE PHOSPHATE [Suspect]
     Active Substance: CODEINE PHOSPHATE
     Route: 065
  1012. CODEINE PHOSPHATE [Suspect]
     Active Substance: CODEINE PHOSPHATE
     Route: 065
  1013. CODEINE PHOSPHATE [Suspect]
     Active Substance: CODEINE PHOSPHATE
     Route: 065
  1014. CODEINE PHOSPHATE [Suspect]
     Active Substance: CODEINE PHOSPHATE
     Route: 065
  1015. DULOXETINE [Suspect]
     Active Substance: DULOXETINE
     Indication: Migraine
     Route: 065
  1016. DULOXETINE [Suspect]
     Active Substance: DULOXETINE
     Route: 065
  1017. OXYCODONE HYDROCHLORIDE [Suspect]
     Active Substance: OXYCODONE HYDROCHLORIDE
     Indication: Migraine
  1018. OXYCODONE HYDROCHLORIDE [Suspect]
     Active Substance: OXYCODONE HYDROCHLORIDE
  1019. OXYCODONE HYDROCHLORIDE [Suspect]
     Active Substance: OXYCODONE HYDROCHLORIDE
     Route: 065
  1020. OXYCODONE HYDROCHLORIDE [Suspect]
     Active Substance: OXYCODONE HYDROCHLORIDE
     Route: 065
  1021. OXYCODONE HYDROCHLORIDE [Suspect]
     Active Substance: OXYCODONE HYDROCHLORIDE
  1022. ZOFRAN [Suspect]
     Active Substance: ONDANSETRON HYDROCHLORIDE
     Indication: Migraine
     Route: 065
  1023. ZOFRAN [Suspect]
     Active Substance: ONDANSETRON HYDROCHLORIDE
  1024. ZOFRAN [Suspect]
     Active Substance: ONDANSETRON HYDROCHLORIDE
     Route: 065
  1025. ZOFRAN [Suspect]
     Active Substance: ONDANSETRON HYDROCHLORIDE
     Route: 065
  1026. CELECOXIB [Suspect]
     Active Substance: CELECOXIB
     Indication: Product used for unknown indication
  1027. CELECOXIB [Suspect]
     Active Substance: CELECOXIB
  1028. TRAMADOL HYDROCHLORIDE [Suspect]
     Active Substance: TRAMADOL HYDROCHLORIDE
     Indication: Migraine
     Route: 065
  1029. HYDROMORPHONE HYDROCHLORIDE [Suspect]
     Active Substance: HYDROMORPHONE HYDROCHLORIDE
     Indication: Product used for unknown indication
     Route: 065
  1030. HYDROMORPHONE HYDROCHLORIDE [Suspect]
     Active Substance: HYDROMORPHONE HYDROCHLORIDE
     Indication: Migraine
     Route: 065
  1031. KETAMINE HYDROCHLORIDE [Suspect]
     Active Substance: KETAMINE HYDROCHLORIDE
     Indication: Product used for unknown indication
     Route: 065
  1032. KETAMINE HYDROCHLORIDE [Suspect]
     Active Substance: KETAMINE HYDROCHLORIDE
     Route: 065
  1033. KETAMINE HYDROCHLORIDE [Suspect]
     Active Substance: KETAMINE HYDROCHLORIDE
     Route: 065
  1034. KETAMINE HYDROCHLORIDE [Suspect]
     Active Substance: KETAMINE HYDROCHLORIDE
     Route: 065
  1035. KETAMINE HYDROCHLORIDE [Suspect]
     Active Substance: KETAMINE HYDROCHLORIDE
     Route: 065
  1036. KETAMINE HYDROCHLORIDE [Suspect]
     Active Substance: KETAMINE HYDROCHLORIDE
     Route: 065
  1037. NORTRIPTYLINE HYDROCHLORIDE [Suspect]
     Active Substance: NORTRIPTYLINE HYDROCHLORIDE
     Indication: Product used for unknown indication
  1038. NORTRIPTYLINE HYDROCHLORIDE [Suspect]
     Active Substance: NORTRIPTYLINE HYDROCHLORIDE
     Route: 065
  1039. NORTRIPTYLINE HYDROCHLORIDE [Suspect]
     Active Substance: NORTRIPTYLINE HYDROCHLORIDE
     Route: 065
  1040. NORTRIPTYLINE HYDROCHLORIDE [Suspect]
     Active Substance: NORTRIPTYLINE HYDROCHLORIDE
     Route: 065
  1041. NORTRIPTYLINE HYDROCHLORIDE [Suspect]
     Active Substance: NORTRIPTYLINE HYDROCHLORIDE
     Route: 065
  1042. ACETAMINOPHEN\TRAMADOL HYDROCHLORIDE [Suspect]
     Active Substance: ACETAMINOPHEN\TRAMADOL HYDROCHLORIDE
     Indication: Migraine
  1043. ACETAMINOPHEN\TRAMADOL HYDROCHLORIDE [Suspect]
     Active Substance: ACETAMINOPHEN\TRAMADOL HYDROCHLORIDE
     Route: 065
  1044. ACETAMINOPHEN\TRAMADOL HYDROCHLORIDE [Suspect]
     Active Substance: ACETAMINOPHEN\TRAMADOL HYDROCHLORIDE
     Route: 065
  1045. DICLOFENAC SODIUM [Suspect]
     Active Substance: DICLOFENAC SODIUM
     Indication: Migraine
     Route: 065
  1046. DICLOFENAC SODIUM [Suspect]
     Active Substance: DICLOFENAC SODIUM
     Indication: Arthralgia
     Route: 065
  1047. DICLOFENAC SODIUM [Suspect]
     Active Substance: DICLOFENAC SODIUM
     Route: 065
  1048. DICLOFENAC SODIUM [Suspect]
     Active Substance: DICLOFENAC SODIUM
     Route: 065
  1049. DICLOFENAC SODIUM [Suspect]
     Active Substance: DICLOFENAC SODIUM
     Route: 065
  1050. DICLOFENAC SODIUM [Suspect]
     Active Substance: DICLOFENAC SODIUM
     Route: 065
  1051. DICLOFENAC SODIUM [Suspect]
     Active Substance: DICLOFENAC SODIUM
     Route: 065
  1052. ALMOTRIPTAN [Suspect]
     Active Substance: ALMOTRIPTAN
     Indication: Product used for unknown indication
     Route: 065
  1053. NEXIUM [Suspect]
     Active Substance: ESOMEPRAZOLE MAGNESIUM
     Indication: Product used for unknown indication
  1054. BOTULINUM TOXIN TYPE A [Suspect]
     Active Substance: BOTULINUM TOXIN TYPE A
     Indication: Product used for unknown indication
  1055. BOTULINUM TOXIN TYPE A [Suspect]
     Active Substance: BOTULINUM TOXIN TYPE A
     Route: 065
  1056. BOTULINUM TOXIN TYPE A [Suspect]
     Active Substance: BOTULINUM TOXIN TYPE A
     Route: 065
  1057. ONDANSETRON HYDROCHLORIDE [Suspect]
     Active Substance: ONDANSETRON HYDROCHLORIDE
     Indication: Migraine
  1058. ONDANSETRON HYDROCHLORIDE [Suspect]
     Active Substance: ONDANSETRON HYDROCHLORIDE
  1059. ONDANSETRON HYDROCHLORIDE [Suspect]
     Active Substance: ONDANSETRON HYDROCHLORIDE
  1060. ONDANSETRON HYDROCHLORIDE [Suspect]
     Active Substance: ONDANSETRON HYDROCHLORIDE
  1061. ESOMEPRAZOLE MAGNESIUM [Suspect]
     Active Substance: ESOMEPRAZOLE MAGNESIUM
     Indication: Product used for unknown indication
  1062. ESOMEPRAZOLE MAGNESIUM [Suspect]
     Active Substance: ESOMEPRAZOLE MAGNESIUM
  1063. ESOMEPRAZOLE MAGNESIUM [Suspect]
     Active Substance: ESOMEPRAZOLE MAGNESIUM
  1064. ESOMEPRAZOLE MAGNESIUM [Suspect]
     Active Substance: ESOMEPRAZOLE MAGNESIUM
  1065. ESOMEPRAZOLE MAGNESIUM [Suspect]
     Active Substance: ESOMEPRAZOLE MAGNESIUM
  1066. ESOMEPRAZOLE MAGNESIUM [Suspect]
     Active Substance: ESOMEPRAZOLE MAGNESIUM
  1067. ESOMEPRAZOLE MAGNESIUM [Suspect]
     Active Substance: ESOMEPRAZOLE MAGNESIUM
  1068. ESOMEPRAZOLE MAGNESIUM [Suspect]
     Active Substance: ESOMEPRAZOLE MAGNESIUM
  1069. ESOMEPRAZOLE MAGNESIUM [Suspect]
     Active Substance: ESOMEPRAZOLE MAGNESIUM
  1070. ESOMEPRAZOLE MAGNESIUM [Suspect]
     Active Substance: ESOMEPRAZOLE MAGNESIUM
  1071. ESOMEPRAZOLE MAGNESIUM [Suspect]
     Active Substance: ESOMEPRAZOLE MAGNESIUM
  1072. ESOMEPRAZOLE MAGNESIUM [Suspect]
     Active Substance: ESOMEPRAZOLE MAGNESIUM
  1073. ESOMEPRAZOLE MAGNESIUM [Suspect]
     Active Substance: ESOMEPRAZOLE MAGNESIUM
  1074. ESOMEPRAZOLE MAGNESIUM [Suspect]
     Active Substance: ESOMEPRAZOLE MAGNESIUM
  1075. ESOMEPRAZOLE MAGNESIUM [Suspect]
     Active Substance: ESOMEPRAZOLE MAGNESIUM
  1076. ESOMEPRAZOLE MAGNESIUM [Suspect]
     Active Substance: ESOMEPRAZOLE MAGNESIUM
  1077. ESOMEPRAZOLE MAGNESIUM [Suspect]
     Active Substance: ESOMEPRAZOLE MAGNESIUM
  1078. ESOMEPRAZOLE MAGNESIUM [Suspect]
     Active Substance: ESOMEPRAZOLE MAGNESIUM
  1079. ESOMEPRAZOLE MAGNESIUM [Suspect]
     Active Substance: ESOMEPRAZOLE MAGNESIUM
  1080. ESOMEPRAZOLE MAGNESIUM [Suspect]
     Active Substance: ESOMEPRAZOLE MAGNESIUM
  1081. ESOMEPRAZOLE MAGNESIUM [Suspect]
     Active Substance: ESOMEPRAZOLE MAGNESIUM
  1082. ESOMEPRAZOLE MAGNESIUM [Suspect]
     Active Substance: ESOMEPRAZOLE MAGNESIUM
  1083. ESOMEPRAZOLE MAGNESIUM [Suspect]
     Active Substance: ESOMEPRAZOLE MAGNESIUM
  1084. ESOMEPRAZOLE MAGNESIUM [Suspect]
     Active Substance: ESOMEPRAZOLE MAGNESIUM
  1085. ESOMEPRAZOLE MAGNESIUM [Suspect]
     Active Substance: ESOMEPRAZOLE MAGNESIUM
  1086. ESOMEPRAZOLE MAGNESIUM [Suspect]
     Active Substance: ESOMEPRAZOLE MAGNESIUM
  1087. ESOMEPRAZOLE MAGNESIUM [Suspect]
     Active Substance: ESOMEPRAZOLE MAGNESIUM
  1088. ESOMEPRAZOLE MAGNESIUM [Suspect]
     Active Substance: ESOMEPRAZOLE MAGNESIUM
  1089. ESOMEPRAZOLE MAGNESIUM [Suspect]
     Active Substance: ESOMEPRAZOLE MAGNESIUM
  1090. ESOMEPRAZOLE MAGNESIUM [Suspect]
     Active Substance: ESOMEPRAZOLE MAGNESIUM
  1091. ESOMEPRAZOLE MAGNESIUM [Suspect]
     Active Substance: ESOMEPRAZOLE MAGNESIUM
  1092. ESOMEPRAZOLE MAGNESIUM [Suspect]
     Active Substance: ESOMEPRAZOLE MAGNESIUM
  1093. ESOMEPRAZOLE MAGNESIUM [Suspect]
     Active Substance: ESOMEPRAZOLE MAGNESIUM
  1094. ESOMEPRAZOLE MAGNESIUM [Suspect]
     Active Substance: ESOMEPRAZOLE MAGNESIUM
  1095. ESOMEPRAZOLE MAGNESIUM [Suspect]
     Active Substance: ESOMEPRAZOLE MAGNESIUM
  1096. ESOMEPRAZOLE MAGNESIUM [Suspect]
     Active Substance: ESOMEPRAZOLE MAGNESIUM
  1097. ESOMEPRAZOLE MAGNESIUM [Suspect]
     Active Substance: ESOMEPRAZOLE MAGNESIUM
  1098. ESOMEPRAZOLE MAGNESIUM [Suspect]
     Active Substance: ESOMEPRAZOLE MAGNESIUM
  1099. ESOMEPRAZOLE MAGNESIUM [Suspect]
     Active Substance: ESOMEPRAZOLE MAGNESIUM
  1100. ESOMEPRAZOLE MAGNESIUM [Suspect]
     Active Substance: ESOMEPRAZOLE MAGNESIUM
  1101. ESOMEPRAZOLE MAGNESIUM [Suspect]
     Active Substance: ESOMEPRAZOLE MAGNESIUM
  1102. ESOMEPRAZOLE MAGNESIUM [Suspect]
     Active Substance: ESOMEPRAZOLE MAGNESIUM
  1103. ESOMEPRAZOLE MAGNESIUM [Suspect]
     Active Substance: ESOMEPRAZOLE MAGNESIUM
  1104. ESOMEPRAZOLE MAGNESIUM [Suspect]
     Active Substance: ESOMEPRAZOLE MAGNESIUM
  1105. ESOMEPRAZOLE MAGNESIUM [Suspect]
     Active Substance: ESOMEPRAZOLE MAGNESIUM
  1106. ESOMEPRAZOLE MAGNESIUM [Suspect]
     Active Substance: ESOMEPRAZOLE MAGNESIUM
  1107. ESOMEPRAZOLE MAGNESIUM [Suspect]
     Active Substance: ESOMEPRAZOLE MAGNESIUM
  1108. ESOMEPRAZOLE MAGNESIUM [Suspect]
     Active Substance: ESOMEPRAZOLE MAGNESIUM
  1109. ESOMEPRAZOLE MAGNESIUM [Suspect]
     Active Substance: ESOMEPRAZOLE MAGNESIUM
  1110. ESOMEPRAZOLE MAGNESIUM [Suspect]
     Active Substance: ESOMEPRAZOLE MAGNESIUM
  1111. ESOMEPRAZOLE MAGNESIUM [Suspect]
     Active Substance: ESOMEPRAZOLE MAGNESIUM
  1112. ESOMEPRAZOLE MAGNESIUM [Suspect]
     Active Substance: ESOMEPRAZOLE MAGNESIUM
  1113. ESOMEPRAZOLE MAGNESIUM [Suspect]
     Active Substance: ESOMEPRAZOLE MAGNESIUM
  1114. ESOMEPRAZOLE MAGNESIUM [Suspect]
     Active Substance: ESOMEPRAZOLE MAGNESIUM
  1115. ESOMEPRAZOLE MAGNESIUM [Suspect]
     Active Substance: ESOMEPRAZOLE MAGNESIUM
  1116. ESOMEPRAZOLE MAGNESIUM [Suspect]
     Active Substance: ESOMEPRAZOLE MAGNESIUM
  1117. ESOMEPRAZOLE MAGNESIUM [Suspect]
     Active Substance: ESOMEPRAZOLE MAGNESIUM
  1118. ESOMEPRAZOLE MAGNESIUM [Suspect]
     Active Substance: ESOMEPRAZOLE MAGNESIUM
  1119. ESOMEPRAZOLE MAGNESIUM [Suspect]
     Active Substance: ESOMEPRAZOLE MAGNESIUM
  1120. ESOMEPRAZOLE MAGNESIUM [Suspect]
     Active Substance: ESOMEPRAZOLE MAGNESIUM
  1121. ESOMEPRAZOLE MAGNESIUM [Suspect]
     Active Substance: ESOMEPRAZOLE MAGNESIUM
  1122. ESOMEPRAZOLE MAGNESIUM [Suspect]
     Active Substance: ESOMEPRAZOLE MAGNESIUM
  1123. ESOMEPRAZOLE MAGNESIUM [Suspect]
     Active Substance: ESOMEPRAZOLE MAGNESIUM
  1124. ESOMEPRAZOLE MAGNESIUM [Suspect]
     Active Substance: ESOMEPRAZOLE MAGNESIUM
  1125. ESOMEPRAZOLE MAGNESIUM [Suspect]
     Active Substance: ESOMEPRAZOLE MAGNESIUM
  1126. ESOMEPRAZOLE MAGNESIUM [Suspect]
     Active Substance: ESOMEPRAZOLE MAGNESIUM
  1127. ESOMEPRAZOLE MAGNESIUM [Suspect]
     Active Substance: ESOMEPRAZOLE MAGNESIUM
  1128. ESOMEPRAZOLE MAGNESIUM [Suspect]
     Active Substance: ESOMEPRAZOLE MAGNESIUM
  1129. ESOMEPRAZOLE MAGNESIUM [Suspect]
     Active Substance: ESOMEPRAZOLE MAGNESIUM
  1130. ESOMEPRAZOLE MAGNESIUM [Suspect]
     Active Substance: ESOMEPRAZOLE MAGNESIUM
  1131. ESOMEPRAZOLE MAGNESIUM [Suspect]
     Active Substance: ESOMEPRAZOLE MAGNESIUM
  1132. ESOMEPRAZOLE MAGNESIUM [Suspect]
     Active Substance: ESOMEPRAZOLE MAGNESIUM
  1133. ESOMEPRAZOLE MAGNESIUM [Suspect]
     Active Substance: ESOMEPRAZOLE MAGNESIUM
  1134. ESOMEPRAZOLE MAGNESIUM [Suspect]
     Active Substance: ESOMEPRAZOLE MAGNESIUM
  1135. ESOMEPRAZOLE MAGNESIUM [Suspect]
     Active Substance: ESOMEPRAZOLE MAGNESIUM
  1136. ESOMEPRAZOLE MAGNESIUM [Suspect]
     Active Substance: ESOMEPRAZOLE MAGNESIUM
  1137. ESOMEPRAZOLE MAGNESIUM [Suspect]
     Active Substance: ESOMEPRAZOLE MAGNESIUM
  1138. ESOMEPRAZOLE MAGNESIUM [Suspect]
     Active Substance: ESOMEPRAZOLE MAGNESIUM
  1139. ESOMEPRAZOLE MAGNESIUM [Suspect]
     Active Substance: ESOMEPRAZOLE MAGNESIUM
  1140. ESOMEPRAZOLE MAGNESIUM [Suspect]
     Active Substance: ESOMEPRAZOLE MAGNESIUM
  1141. ESOMEPRAZOLE MAGNESIUM [Suspect]
     Active Substance: ESOMEPRAZOLE MAGNESIUM
  1142. ESOMEPRAZOLE MAGNESIUM [Suspect]
     Active Substance: ESOMEPRAZOLE MAGNESIUM
  1143. ESOMEPRAZOLE MAGNESIUM [Suspect]
     Active Substance: ESOMEPRAZOLE MAGNESIUM
  1144. ESOMEPRAZOLE MAGNESIUM [Suspect]
     Active Substance: ESOMEPRAZOLE MAGNESIUM
  1145. ESOMEPRAZOLE MAGNESIUM [Suspect]
     Active Substance: ESOMEPRAZOLE MAGNESIUM
  1146. ESOMEPRAZOLE MAGNESIUM [Suspect]
     Active Substance: ESOMEPRAZOLE MAGNESIUM
  1147. ESOMEPRAZOLE MAGNESIUM [Suspect]
     Active Substance: ESOMEPRAZOLE MAGNESIUM
  1148. ESOMEPRAZOLE MAGNESIUM [Suspect]
     Active Substance: ESOMEPRAZOLE MAGNESIUM
  1149. ESOMEPRAZOLE MAGNESIUM [Suspect]
     Active Substance: ESOMEPRAZOLE MAGNESIUM
  1150. ESOMEPRAZOLE MAGNESIUM [Suspect]
     Active Substance: ESOMEPRAZOLE MAGNESIUM
  1151. ESOMEPRAZOLE MAGNESIUM [Suspect]
     Active Substance: ESOMEPRAZOLE MAGNESIUM
  1152. ESOMEPRAZOLE MAGNESIUM [Suspect]
     Active Substance: ESOMEPRAZOLE MAGNESIUM
  1153. ESOMEPRAZOLE MAGNESIUM [Suspect]
     Active Substance: ESOMEPRAZOLE MAGNESIUM
  1154. ESOMEPRAZOLE MAGNESIUM [Suspect]
     Active Substance: ESOMEPRAZOLE MAGNESIUM
  1155. ESOMEPRAZOLE MAGNESIUM [Suspect]
     Active Substance: ESOMEPRAZOLE MAGNESIUM
  1156. ESOMEPRAZOLE MAGNESIUM [Suspect]
     Active Substance: ESOMEPRAZOLE MAGNESIUM
  1157. ESOMEPRAZOLE MAGNESIUM [Suspect]
     Active Substance: ESOMEPRAZOLE MAGNESIUM
  1158. ESOMEPRAZOLE MAGNESIUM [Suspect]
     Active Substance: ESOMEPRAZOLE MAGNESIUM
  1159. ESOMEPRAZOLE MAGNESIUM [Suspect]
     Active Substance: ESOMEPRAZOLE MAGNESIUM
  1160. ESOMEPRAZOLE MAGNESIUM [Suspect]
     Active Substance: ESOMEPRAZOLE MAGNESIUM
  1161. PROPRANOLOL [Suspect]
     Active Substance: PROPRANOLOL HYDROCHLORIDE
     Indication: Migraine
     Route: 065
  1162. PROPRANOLOL [Suspect]
     Active Substance: PROPRANOLOL HYDROCHLORIDE
     Route: 065
  1163. PROPRANOLOL [Suspect]
     Active Substance: PROPRANOLOL HYDROCHLORIDE
     Route: 065
  1164. PROPRANOLOL [Suspect]
     Active Substance: PROPRANOLOL HYDROCHLORIDE
     Route: 065
  1165. PROPRANOLOL [Suspect]
     Active Substance: PROPRANOLOL HYDROCHLORIDE
     Route: 065
  1166. PROPRANOLOL [Suspect]
     Active Substance: PROPRANOLOL HYDROCHLORIDE
     Route: 065
  1167. PROPRANOLOL [Suspect]
     Active Substance: PROPRANOLOL HYDROCHLORIDE
     Route: 065
  1168. PROPRANOLOL [Suspect]
     Active Substance: PROPRANOLOL HYDROCHLORIDE
     Route: 065
  1169. PROPRANOLOL [Suspect]
     Active Substance: PROPRANOLOL HYDROCHLORIDE
     Route: 065
  1170. PROPRANOLOL [Suspect]
     Active Substance: PROPRANOLOL HYDROCHLORIDE
     Route: 065
  1171. PROPRANOLOL [Suspect]
     Active Substance: PROPRANOLOL HYDROCHLORIDE
     Route: 065
  1172. PROPRANOLOL [Suspect]
     Active Substance: PROPRANOLOL HYDROCHLORIDE
     Route: 065
  1173. PROPRANOLOL [Suspect]
     Active Substance: PROPRANOLOL HYDROCHLORIDE
     Route: 065
  1174. PROPRANOLOL [Suspect]
     Active Substance: PROPRANOLOL HYDROCHLORIDE
     Route: 065
  1175. PROPRANOLOL [Suspect]
     Active Substance: PROPRANOLOL HYDROCHLORIDE
     Route: 065
  1176. PROPRANOLOL [Suspect]
     Active Substance: PROPRANOLOL HYDROCHLORIDE
     Route: 065
  1177. PROPRANOLOL [Suspect]
     Active Substance: PROPRANOLOL HYDROCHLORIDE
     Route: 065
  1178. PROPRANOLOL [Suspect]
     Active Substance: PROPRANOLOL HYDROCHLORIDE
     Route: 065
  1179. PROPRANOLOL [Suspect]
     Active Substance: PROPRANOLOL HYDROCHLORIDE
     Route: 065
  1180. PROPRANOLOL [Suspect]
     Active Substance: PROPRANOLOL HYDROCHLORIDE
     Route: 065
  1181. PROPRANOLOL [Suspect]
     Active Substance: PROPRANOLOL HYDROCHLORIDE
     Route: 065
  1182. PROPRANOLOL [Suspect]
     Active Substance: PROPRANOLOL HYDROCHLORIDE
     Route: 065
  1183. PROPRANOLOL [Suspect]
     Active Substance: PROPRANOLOL HYDROCHLORIDE
     Route: 065
  1184. PROPRANOLOL [Suspect]
     Active Substance: PROPRANOLOL HYDROCHLORIDE
     Route: 065
  1185. PROPRANOLOL [Suspect]
     Active Substance: PROPRANOLOL HYDROCHLORIDE
     Route: 065
  1186. PROPRANOLOL [Suspect]
     Active Substance: PROPRANOLOL HYDROCHLORIDE
     Route: 065
  1187. PROPRANOLOL [Suspect]
     Active Substance: PROPRANOLOL HYDROCHLORIDE
     Route: 065
  1188. PROPRANOLOL [Suspect]
     Active Substance: PROPRANOLOL HYDROCHLORIDE
     Route: 065
  1189. PROPRANOLOL [Suspect]
     Active Substance: PROPRANOLOL HYDROCHLORIDE
     Route: 065
  1190. PROPRANOLOL [Suspect]
     Active Substance: PROPRANOLOL HYDROCHLORIDE
     Route: 065
  1191. PROPRANOLOL [Suspect]
     Active Substance: PROPRANOLOL HYDROCHLORIDE
     Route: 065
  1192. PROPRANOLOL [Suspect]
     Active Substance: PROPRANOLOL HYDROCHLORIDE
     Route: 065
  1193. PROPRANOLOL [Suspect]
     Active Substance: PROPRANOLOL HYDROCHLORIDE
     Route: 065
  1194. PROPRANOLOL [Suspect]
     Active Substance: PROPRANOLOL HYDROCHLORIDE
     Route: 065
  1195. PROPRANOLOL [Suspect]
     Active Substance: PROPRANOLOL HYDROCHLORIDE
     Route: 065
  1196. PROPRANOLOL [Suspect]
     Active Substance: PROPRANOLOL HYDROCHLORIDE
     Route: 065
  1197. PROPRANOLOL [Suspect]
     Active Substance: PROPRANOLOL HYDROCHLORIDE
     Route: 065
  1198. PROPRANOLOL [Suspect]
     Active Substance: PROPRANOLOL HYDROCHLORIDE
     Route: 065
  1199. PROPRANOLOL [Suspect]
     Active Substance: PROPRANOLOL HYDROCHLORIDE
     Route: 065
  1200. PROPRANOLOL [Suspect]
     Active Substance: PROPRANOLOL HYDROCHLORIDE
     Route: 065
  1201. PROPRANOLOL [Suspect]
     Active Substance: PROPRANOLOL HYDROCHLORIDE
     Route: 065
  1202. VENLAFAXINE HYDROCHLORIDE [Suspect]
     Active Substance: VENLAFAXINE HYDROCHLORIDE
     Indication: Migraine
     Route: 065
  1203. VENLAFAXINE HYDROCHLORIDE [Suspect]
     Active Substance: VENLAFAXINE HYDROCHLORIDE
     Route: 065
  1204. VENLAFAXINE HYDROCHLORIDE [Suspect]
     Active Substance: VENLAFAXINE HYDROCHLORIDE
     Route: 065
  1205. VENLAFAXINE HYDROCHLORIDE [Suspect]
     Active Substance: VENLAFAXINE HYDROCHLORIDE
     Route: 065
  1206. CODEINE SULFATE [Suspect]
     Active Substance: CODEINE SULFATE
     Indication: Migraine
  1207. CODEINE SULFATE [Suspect]
     Active Substance: CODEINE SULFATE
  1208. ESOMEPRAZOLE MAGNESIUM\NAPROXEN [Suspect]
     Active Substance: ESOMEPRAZOLE MAGNESIUM\NAPROXEN
     Indication: Product used for unknown indication
  1209. ESOMEPRAZOLE MAGNESIUM\NAPROXEN [Suspect]
     Active Substance: ESOMEPRAZOLE MAGNESIUM\NAPROXEN
  1210. ESOMEPRAZOLE MAGNESIUM\NAPROXEN [Suspect]
     Active Substance: ESOMEPRAZOLE MAGNESIUM\NAPROXEN
  1211. ESOMEPRAZOLE MAGNESIUM\NAPROXEN [Suspect]
     Active Substance: ESOMEPRAZOLE MAGNESIUM\NAPROXEN
  1212. ESOMEPRAZOLE MAGNESIUM\NAPROXEN [Suspect]
     Active Substance: ESOMEPRAZOLE MAGNESIUM\NAPROXEN
  1213. ESOMEPRAZOLE MAGNESIUM\NAPROXEN [Suspect]
     Active Substance: ESOMEPRAZOLE MAGNESIUM\NAPROXEN
  1214. ESOMEPRAZOLE MAGNESIUM\NAPROXEN [Suspect]
     Active Substance: ESOMEPRAZOLE MAGNESIUM\NAPROXEN
  1215. ESOMEPRAZOLE MAGNESIUM\NAPROXEN [Suspect]
     Active Substance: ESOMEPRAZOLE MAGNESIUM\NAPROXEN
  1216. ESOMEPRAZOLE MAGNESIUM\NAPROXEN [Suspect]
     Active Substance: ESOMEPRAZOLE MAGNESIUM\NAPROXEN
  1217. ESOMEPRAZOLE MAGNESIUM\NAPROXEN [Suspect]
     Active Substance: ESOMEPRAZOLE MAGNESIUM\NAPROXEN
  1218. ESOMEPRAZOLE MAGNESIUM\NAPROXEN [Suspect]
     Active Substance: ESOMEPRAZOLE MAGNESIUM\NAPROXEN
  1219. ESOMEPRAZOLE MAGNESIUM\NAPROXEN [Suspect]
     Active Substance: ESOMEPRAZOLE MAGNESIUM\NAPROXEN
  1220. ESOMEPRAZOLE MAGNESIUM\NAPROXEN [Suspect]
     Active Substance: ESOMEPRAZOLE MAGNESIUM\NAPROXEN
  1221. ESOMEPRAZOLE MAGNESIUM\NAPROXEN [Suspect]
     Active Substance: ESOMEPRAZOLE MAGNESIUM\NAPROXEN
  1222. ESOMEPRAZOLE MAGNESIUM\NAPROXEN [Suspect]
     Active Substance: ESOMEPRAZOLE MAGNESIUM\NAPROXEN
  1223. ESOMEPRAZOLE MAGNESIUM\NAPROXEN [Suspect]
     Active Substance: ESOMEPRAZOLE MAGNESIUM\NAPROXEN
  1224. ESOMEPRAZOLE MAGNESIUM\NAPROXEN [Suspect]
     Active Substance: ESOMEPRAZOLE MAGNESIUM\NAPROXEN
  1225. ESOMEPRAZOLE MAGNESIUM\NAPROXEN [Suspect]
     Active Substance: ESOMEPRAZOLE MAGNESIUM\NAPROXEN
  1226. ESOMEPRAZOLE MAGNESIUM\NAPROXEN [Suspect]
     Active Substance: ESOMEPRAZOLE MAGNESIUM\NAPROXEN
  1227. ESOMEPRAZOLE MAGNESIUM\NAPROXEN [Suspect]
     Active Substance: ESOMEPRAZOLE MAGNESIUM\NAPROXEN
  1228. ESOMEPRAZOLE MAGNESIUM\NAPROXEN [Suspect]
     Active Substance: ESOMEPRAZOLE MAGNESIUM\NAPROXEN
  1229. ESOMEPRAZOLE MAGNESIUM\NAPROXEN [Suspect]
     Active Substance: ESOMEPRAZOLE MAGNESIUM\NAPROXEN
  1230. ESOMEPRAZOLE MAGNESIUM\NAPROXEN [Suspect]
     Active Substance: ESOMEPRAZOLE MAGNESIUM\NAPROXEN
  1231. ESOMEPRAZOLE MAGNESIUM\NAPROXEN [Suspect]
     Active Substance: ESOMEPRAZOLE MAGNESIUM\NAPROXEN
  1232. ESOMEPRAZOLE MAGNESIUM\NAPROXEN [Suspect]
     Active Substance: ESOMEPRAZOLE MAGNESIUM\NAPROXEN
  1233. ESOMEPRAZOLE MAGNESIUM\NAPROXEN [Suspect]
     Active Substance: ESOMEPRAZOLE MAGNESIUM\NAPROXEN
  1234. ESOMEPRAZOLE MAGNESIUM\NAPROXEN [Suspect]
     Active Substance: ESOMEPRAZOLE MAGNESIUM\NAPROXEN
  1235. ESOMEPRAZOLE MAGNESIUM\NAPROXEN [Suspect]
     Active Substance: ESOMEPRAZOLE MAGNESIUM\NAPROXEN
  1236. ESOMEPRAZOLE MAGNESIUM\NAPROXEN [Suspect]
     Active Substance: ESOMEPRAZOLE MAGNESIUM\NAPROXEN
  1237. ESOMEPRAZOLE MAGNESIUM\NAPROXEN [Suspect]
     Active Substance: ESOMEPRAZOLE MAGNESIUM\NAPROXEN
  1238. ESOMEPRAZOLE MAGNESIUM\NAPROXEN [Suspect]
     Active Substance: ESOMEPRAZOLE MAGNESIUM\NAPROXEN
  1239. ESOMEPRAZOLE MAGNESIUM\NAPROXEN [Suspect]
     Active Substance: ESOMEPRAZOLE MAGNESIUM\NAPROXEN
  1240. ESOMEPRAZOLE MAGNESIUM\NAPROXEN [Suspect]
     Active Substance: ESOMEPRAZOLE MAGNESIUM\NAPROXEN
  1241. ESOMEPRAZOLE MAGNESIUM\NAPROXEN [Suspect]
     Active Substance: ESOMEPRAZOLE MAGNESIUM\NAPROXEN
  1242. ESOMEPRAZOLE MAGNESIUM\NAPROXEN [Suspect]
     Active Substance: ESOMEPRAZOLE MAGNESIUM\NAPROXEN
  1243. ESOMEPRAZOLE MAGNESIUM\NAPROXEN [Suspect]
     Active Substance: ESOMEPRAZOLE MAGNESIUM\NAPROXEN
  1244. ESOMEPRAZOLE MAGNESIUM\NAPROXEN [Suspect]
     Active Substance: ESOMEPRAZOLE MAGNESIUM\NAPROXEN
  1245. ESOMEPRAZOLE MAGNESIUM\NAPROXEN [Suspect]
     Active Substance: ESOMEPRAZOLE MAGNESIUM\NAPROXEN
  1246. ESOMEPRAZOLE MAGNESIUM\NAPROXEN [Suspect]
     Active Substance: ESOMEPRAZOLE MAGNESIUM\NAPROXEN
  1247. ESOMEPRAZOLE MAGNESIUM\NAPROXEN [Suspect]
     Active Substance: ESOMEPRAZOLE MAGNESIUM\NAPROXEN
  1248. ESOMEPRAZOLE MAGNESIUM\NAPROXEN [Suspect]
     Active Substance: ESOMEPRAZOLE MAGNESIUM\NAPROXEN
  1249. ESOMEPRAZOLE MAGNESIUM\NAPROXEN [Suspect]
     Active Substance: ESOMEPRAZOLE MAGNESIUM\NAPROXEN
  1250. ESOMEPRAZOLE MAGNESIUM\NAPROXEN [Suspect]
     Active Substance: ESOMEPRAZOLE MAGNESIUM\NAPROXEN
  1251. ESOMEPRAZOLE MAGNESIUM\NAPROXEN [Suspect]
     Active Substance: ESOMEPRAZOLE MAGNESIUM\NAPROXEN
  1252. ESOMEPRAZOLE MAGNESIUM\NAPROXEN [Suspect]
     Active Substance: ESOMEPRAZOLE MAGNESIUM\NAPROXEN
  1253. ESOMEPRAZOLE MAGNESIUM\NAPROXEN [Suspect]
     Active Substance: ESOMEPRAZOLE MAGNESIUM\NAPROXEN
  1254. ESOMEPRAZOLE MAGNESIUM\NAPROXEN [Suspect]
     Active Substance: ESOMEPRAZOLE MAGNESIUM\NAPROXEN
  1255. ESOMEPRAZOLE MAGNESIUM\NAPROXEN [Suspect]
     Active Substance: ESOMEPRAZOLE MAGNESIUM\NAPROXEN
  1256. ESOMEPRAZOLE MAGNESIUM\NAPROXEN [Suspect]
     Active Substance: ESOMEPRAZOLE MAGNESIUM\NAPROXEN
  1257. ONDANSETRON [Suspect]
     Active Substance: ONDANSETRON
     Indication: Migraine
     Route: 065
  1258. ONDANSETRON [Suspect]
     Active Substance: ONDANSETRON
     Route: 065
  1259. ONDANSETRON [Suspect]
     Active Substance: ONDANSETRON
     Route: 065
  1260. ONDANSETRON [Suspect]
     Active Substance: ONDANSETRON
     Route: 065
  1261. ONDANSETRON [Suspect]
     Active Substance: ONDANSETRON
     Route: 065
  1262. ONDANSETRON [Suspect]
     Active Substance: ONDANSETRON
     Route: 065
  1263. ONDANSETRON [Suspect]
     Active Substance: ONDANSETRON
     Route: 065
  1264. ONDANSETRON [Suspect]
     Active Substance: ONDANSETRON
     Route: 065
  1265. ONDANSETRON [Suspect]
     Active Substance: ONDANSETRON
     Route: 065
  1266. ONDANSETRON [Suspect]
     Active Substance: ONDANSETRON
     Route: 065
  1267. ONDANSETRON [Suspect]
     Active Substance: ONDANSETRON
     Route: 065
  1268. CODEINE [Suspect]
     Active Substance: CODEINE
     Indication: Migraine
  1269. DICLOFENAC POTASSIUM [Suspect]
     Active Substance: DICLOFENAC POTASSIUM
     Indication: Migraine
     Route: 065

REACTIONS (8)
  - Nephrolithiasis [Unknown]
  - Hyperhidrosis [Unknown]
  - Sedation [Unknown]
  - Off label use [Unknown]
  - Drug ineffective [Unknown]
  - Nausea [Unknown]
  - Nightmare [Unknown]
  - Product use in unapproved indication [Unknown]
